FAERS Safety Report 23415167 (Version 6)
Quarter: 2024Q3

REPORT INFORMATION
  Report Type: Spontaneous
  Country: CA (occurrence: CA)
  Receive Date: 20240118
  Receipt Date: 20240903
  Transmission Date: 20241017
  Serious: Yes (Congenital Anomaly)
  Sender: BRISTOL MYERS SQUIBB
  Company Number: CA-BRISTOL-MYERS SQUIBB COMPANY-2022-025869

PATIENT

DRUGS (1034)
  1. ABATACEPT [Suspect]
     Active Substance: ABATACEPT
     Indication: Product used for unknown indication
     Dosage: 365 DOSAGE FORM
     Route: 064
  2. ABATACEPT [Suspect]
     Active Substance: ABATACEPT
     Route: 064
  3. ORENCIA [Suspect]
     Active Substance: ABATACEPT
     Indication: Product used for unknown indication
     Route: 064
  4. ORENCIA [Suspect]
     Active Substance: ABATACEPT
     Route: 064
  5. ORENCIA [Suspect]
     Active Substance: ABATACEPT
     Dosage: 11 YEARS
     Route: 064
  6. ORENCIA [Suspect]
     Active Substance: ABATACEPT
     Route: 064
  7. ORENCIA [Suspect]
     Active Substance: ABATACEPT
     Route: 064
  8. ORENCIA [Suspect]
     Active Substance: ABATACEPT
     Route: 064
  9. ORENCIA [Suspect]
     Active Substance: ABATACEPT
     Route: 064
  10. ORENCIA [Suspect]
     Active Substance: ABATACEPT
     Route: 064
  11. ORENCIA [Suspect]
     Active Substance: ABATACEPT
     Route: 064
  12. ORENCIA [Suspect]
     Active Substance: ABATACEPT
     Route: 064
  13. ORENCIA [Suspect]
     Active Substance: ABATACEPT
     Route: 064
  14. ORENCIA [Suspect]
     Active Substance: ABATACEPT
     Route: 064
  15. ORENCIA [Suspect]
     Active Substance: ABATACEPT
     Route: 064
  16. ORENCIA [Suspect]
     Active Substance: ABATACEPT
     Route: 064
  17. ORENCIA [Suspect]
     Active Substance: ABATACEPT
     Route: 064
  18. ORENCIA [Suspect]
     Active Substance: ABATACEPT
     Route: 064
  19. ORENCIA [Suspect]
     Active Substance: ABATACEPT
     Route: 064
  20. ORENCIA [Suspect]
     Active Substance: ABATACEPT
     Indication: Product used for unknown indication
     Route: 064
  21. ORENCIA [Suspect]
     Active Substance: ABATACEPT
     Route: 064
  22. ORENCIA [Suspect]
     Active Substance: ABATACEPT
     Route: 064
  23. ORENCIA [Suspect]
     Active Substance: ABATACEPT
     Route: 064
  24. ORENCIA [Suspect]
     Active Substance: ABATACEPT
     Route: 064
  25. ORENCIA [Suspect]
     Active Substance: ABATACEPT
     Route: 064
  26. ORENCIA [Suspect]
     Active Substance: ABATACEPT
     Route: 064
  27. ORENCIA [Suspect]
     Active Substance: ABATACEPT
     Route: 064
  28. ORENCIA [Suspect]
     Active Substance: ABATACEPT
     Route: 064
  29. ORENCIA [Suspect]
     Active Substance: ABATACEPT
     Route: 064
  30. ORENCIA [Suspect]
     Active Substance: ABATACEPT
     Route: 064
  31. ORENCIA [Suspect]
     Active Substance: ABATACEPT
     Route: 064
  32. ORENCIA [Suspect]
     Active Substance: ABATACEPT
     Route: 064
  33. ORENCIA [Suspect]
     Active Substance: ABATACEPT
     Route: 064
  34. ORENCIA [Suspect]
     Active Substance: ABATACEPT
     Route: 064
  35. ORENCIA [Suspect]
     Active Substance: ABATACEPT
     Route: 064
  36. ORENCIA [Suspect]
     Active Substance: ABATACEPT
     Route: 064
  37. ORENCIA [Suspect]
     Active Substance: ABATACEPT
     Indication: Product used for unknown indication
     Route: 064
  38. ORENCIA [Suspect]
     Active Substance: ABATACEPT
     Dosage: 1 DOSAGE FORM
     Route: 064
  39. ORENCIA [Suspect]
     Active Substance: ABATACEPT
     Route: 064
  40. ORENCIA [Suspect]
     Active Substance: ABATACEPT
     Dosage: 365 DOSAGE FORM
     Route: 064
  41. ORENCIA [Suspect]
     Active Substance: ABATACEPT
     Route: 064
  42. ORENCIA [Suspect]
     Active Substance: ABATACEPT
     Route: 064
  43. ORENCIA [Suspect]
     Active Substance: ABATACEPT
     Route: 064
  44. TRIAMCINOLONE ACETONIDE [Suspect]
     Active Substance: TRIAMCINOLONE ACETONIDE
     Indication: Product used for unknown indication
     Dosage: SUSPENSION INTRA-ARTICULAR
     Route: 064
  45. TRIAMCINOLONE ACETONIDE [Suspect]
     Active Substance: TRIAMCINOLONE ACETONIDE
     Route: 064
  46. TRIAMCINOLONE ACETONIDE [Suspect]
     Active Substance: TRIAMCINOLONE ACETONIDE
     Dosage: SUSPENSION INTRA-ARTICULAR
     Route: 064
  47. ACETAMINOPHEN AND CODEINE [Concomitant]
     Active Substance: ACETAMINOPHEN\CODEINE PHOSPHATE
     Indication: Product used for unknown indication
     Route: 064
  48. ACTEMRA [Concomitant]
     Active Substance: TOCILIZUMAB
     Indication: Product used for unknown indication
     Route: 064
  49. ACTEMRA [Concomitant]
     Active Substance: TOCILIZUMAB
     Route: 064
  50. ACTEMRA [Concomitant]
     Active Substance: TOCILIZUMAB
     Route: 064
  51. ACTEMRA [Concomitant]
     Active Substance: TOCILIZUMAB
     Route: 064
  52. ACTEMRA [Concomitant]
     Active Substance: TOCILIZUMAB
     Route: 064
  53. ACTEMRA [Concomitant]
     Active Substance: TOCILIZUMAB
     Route: 064
  54. ACTEMRA [Concomitant]
     Active Substance: TOCILIZUMAB
     Route: 064
  55. ACTEMRA [Concomitant]
     Active Substance: TOCILIZUMAB
     Route: 064
  56. ACTEMRA [Concomitant]
     Active Substance: TOCILIZUMAB
     Route: 064
  57. ACTEMRA [Concomitant]
     Active Substance: TOCILIZUMAB
     Route: 064
  58. ACTEMRA [Concomitant]
     Active Substance: TOCILIZUMAB
     Dosage: 1 DF=3011.2?1 DOSAGE FORM
     Route: 064
  59. ACTEMRA [Concomitant]
     Active Substance: TOCILIZUMAB
     Route: 064
  60. ACTEMRA [Concomitant]
     Active Substance: TOCILIZUMAB
     Route: 064
  61. ACTEMRA [Concomitant]
     Active Substance: TOCILIZUMAB
     Route: 064
  62. ACTEMRA [Concomitant]
     Active Substance: TOCILIZUMAB
     Route: 064
  63. ACTEMRA [Concomitant]
     Active Substance: TOCILIZUMAB
     Route: 064
  64. ACTEMRA [Concomitant]
     Active Substance: TOCILIZUMAB
     Route: 064
  65. ACTEMRA [Concomitant]
     Active Substance: TOCILIZUMAB
     Route: 064
  66. ACTEMRA [Concomitant]
     Active Substance: TOCILIZUMAB
     Route: 064
  67. ACTEMRA [Concomitant]
     Active Substance: TOCILIZUMAB
     Route: 064
  68. ACTEMRA [Concomitant]
     Active Substance: TOCILIZUMAB
     Route: 064
  69. ACTEMRA [Concomitant]
     Active Substance: TOCILIZUMAB
     Dosage: 728.8 EQUIVALENT
     Route: 064
  70. ACTEMRA [Concomitant]
     Active Substance: TOCILIZUMAB
     Route: 064
  71. ACTEMRA [Concomitant]
     Active Substance: TOCILIZUMAB
     Route: 064
  72. ACTEMRA [Concomitant]
     Active Substance: TOCILIZUMAB
     Route: 064
  73. ACTEMRA [Concomitant]
     Active Substance: TOCILIZUMAB
     Route: 064
  74. ACTEMRA [Concomitant]
     Active Substance: TOCILIZUMAB
     Route: 064
  75. ACTEMRA [Concomitant]
     Active Substance: TOCILIZUMAB
     Route: 064
  76. ACTEMRA [Concomitant]
     Active Substance: TOCILIZUMAB
     Route: 064
  77. ACTEMRA [Concomitant]
     Active Substance: TOCILIZUMAB
     Route: 064
  78. ACTEMRA [Concomitant]
     Active Substance: TOCILIZUMAB
     Route: 064
  79. ACTEMRA [Concomitant]
     Active Substance: TOCILIZUMAB
     Route: 064
  80. ACTEMRA [Concomitant]
     Active Substance: TOCILIZUMAB
     Route: 064
  81. ADALIMUMAB [Concomitant]
     Active Substance: ADALIMUMAB
     Indication: Product used for unknown indication
     Dosage: SOLUTION SUBCUTANEOUS
     Route: 064
  82. ADALIMUMAB [Concomitant]
     Active Substance: ADALIMUMAB
     Route: 064
  83. ADALIMUMAB [Concomitant]
     Active Substance: ADALIMUMAB
     Dosage: SOLUTION SUBCUTANEOUS
     Route: 064
  84. ADALIMUMAB [Concomitant]
     Active Substance: ADALIMUMAB
     Dosage: SOLUTION SUBCUTANEOUS
     Route: 064
  85. ADALIMUMAB [Concomitant]
     Active Substance: ADALIMUMAB
     Route: 064
  86. ADALIMUMAB [Concomitant]
     Active Substance: ADALIMUMAB
     Dosage: SOLUTION SUBCUTANEOUS
     Route: 064
  87. ADALIMUMAB [Concomitant]
     Active Substance: ADALIMUMAB
     Route: 064
  88. ADALIMUMAB [Concomitant]
     Active Substance: ADALIMUMAB
     Route: 064
  89. ADALIMUMAB [Concomitant]
     Active Substance: ADALIMUMAB
     Route: 064
  90. ALENDRONATE [Concomitant]
     Active Substance: ALENDRONATE SODIUM
     Indication: Product used for unknown indication
     Route: 064
  91. ALENDRONATE [Concomitant]
     Active Substance: ALENDRONATE SODIUM
     Route: 064
  92. ALENDRONATE SODIUM\CHOLECALCIFEROL [Concomitant]
     Active Substance: ALENDRONATE SODIUM\CHOLECALCIFEROL
     Indication: Product used for unknown indication
     Route: 064
  93. ALENDRONATE SODIUM\CHOLECALCIFEROL [Concomitant]
     Active Substance: ALENDRONATE SODIUM\CHOLECALCIFEROL
     Route: 064
  94. ALENDRONIC ACID [Concomitant]
     Active Substance: ALENDRONIC ACID
     Indication: Product used for unknown indication
     Route: 064
  95. ALENDRONIC ACID [Concomitant]
     Active Substance: ALENDRONIC ACID
     Route: 064
  96. ALENDRONIC ACID [Concomitant]
     Active Substance: ALENDRONIC ACID
     Route: 064
  97. PREDNISONE [Concomitant]
     Active Substance: PREDNISONE
     Indication: Product used for unknown indication
     Route: 064
  98. PREDNISONE [Concomitant]
     Active Substance: PREDNISONE
     Route: 064
  99. PREDNISONE [Concomitant]
     Active Substance: PREDNISONE
     Route: 064
  100. PREDNISONE [Concomitant]
     Active Substance: PREDNISONE
     Route: 064
  101. PREDNISONE [Concomitant]
     Active Substance: PREDNISONE
     Route: 064
  102. PREDNISONE [Concomitant]
     Active Substance: PREDNISONE
     Route: 064
  103. PREDNISONE [Concomitant]
     Active Substance: PREDNISONE
     Route: 064
  104. PREDNISONE [Concomitant]
     Active Substance: PREDNISONE
     Route: 064
  105. PREDNISONE [Concomitant]
     Active Substance: PREDNISONE
     Route: 064
  106. PREDNISONE [Concomitant]
     Active Substance: PREDNISONE
     Route: 064
  107. PREDNISONE [Concomitant]
     Active Substance: PREDNISONE
     Route: 064
  108. ARAVA [Concomitant]
     Active Substance: LEFLUNOMIDE
     Indication: Product used for unknown indication
     Route: 064
  109. ARAVA [Concomitant]
     Active Substance: LEFLUNOMIDE
     Route: 064
  110. ARAVA [Concomitant]
     Active Substance: LEFLUNOMIDE
     Route: 064
  111. ARAVA [Concomitant]
     Active Substance: LEFLUNOMIDE
     Route: 064
  112. ARAVA [Concomitant]
     Active Substance: LEFLUNOMIDE
     Route: 064
  113. ARAVA [Concomitant]
     Active Substance: LEFLUNOMIDE
     Route: 064
  114. ARAVA [Concomitant]
     Active Substance: LEFLUNOMIDE
     Route: 064
  115. CETIRIZINE [Concomitant]
     Active Substance: CETIRIZINE HYDROCHLORIDE
     Indication: Product used for unknown indication
     Route: 064
  116. CETIRIZINE [Concomitant]
     Active Substance: CETIRIZINE HYDROCHLORIDE
     Route: 064
  117. CETIRIZINE [Concomitant]
     Active Substance: CETIRIZINE HYDROCHLORIDE
     Route: 064
  118. CETIRIZINE [Concomitant]
     Active Substance: CETIRIZINE HYDROCHLORIDE
     Route: 064
  119. CETIRIZINE [Concomitant]
     Active Substance: CETIRIZINE HYDROCHLORIDE
     Route: 064
  120. CETIRIZINE [Concomitant]
     Active Substance: CETIRIZINE HYDROCHLORIDE
     Route: 064
  121. CETIRIZINE [Concomitant]
     Active Substance: CETIRIZINE HYDROCHLORIDE
     Route: 064
  122. CETIRIZINE [Concomitant]
     Active Substance: CETIRIZINE HYDROCHLORIDE
     Route: 064
  123. CETIRIZINE [Concomitant]
     Active Substance: CETIRIZINE HYDROCHLORIDE
     Route: 064
  124. CETIRIZINE [Concomitant]
     Active Substance: CETIRIZINE HYDROCHLORIDE
     Route: 064
  125. CETIRIZINE [Concomitant]
     Active Substance: CETIRIZINE HYDROCHLORIDE
     Route: 064
  126. CETIRIZINE [Concomitant]
     Active Substance: CETIRIZINE HYDROCHLORIDE
     Route: 064
  127. CETIRIZINE [Concomitant]
     Active Substance: CETIRIZINE HYDROCHLORIDE
     Route: 064
  128. CETIRIZINE [Concomitant]
     Active Substance: CETIRIZINE HYDROCHLORIDE
     Route: 064
  129. CETIRIZINE [Concomitant]
     Active Substance: CETIRIZINE HYDROCHLORIDE
     Route: 064
  130. CHLORHEXIDINE [Concomitant]
     Active Substance: CHLORHEXIDINE
     Indication: Product used for unknown indication
     Route: 064
  131. CHLORHEXIDINE [Concomitant]
     Active Substance: CHLORHEXIDINE
     Route: 064
  132. CHLORHEXIDINE [Concomitant]
     Active Substance: CHLORHEXIDINE
     Route: 064
  133. CHLORHEXIDINE [Concomitant]
     Active Substance: CHLORHEXIDINE
     Route: 064
  134. CHLORHEXIDINE [Concomitant]
     Active Substance: CHLORHEXIDINE
     Route: 064
  135. CHLORHEXIDINE [Concomitant]
     Active Substance: CHLORHEXIDINE
     Route: 064
  136. CHLORHEXIDINE [Concomitant]
     Active Substance: CHLORHEXIDINE
     Route: 064
  137. CHLORHEXIDINE GLUCONATE\ISOPROPYL ALCOHOL [Concomitant]
     Active Substance: CHLORHEXIDINE GLUCONATE\ISOPROPYL ALCOHOL
     Indication: Product used for unknown indication
     Route: 064
  138. CHLORHEXIDINE GLUCONATE\ISOPROPYL ALCOHOL [Concomitant]
     Active Substance: CHLORHEXIDINE GLUCONATE\ISOPROPYL ALCOHOL
     Route: 064
  139. CIMZIA [Concomitant]
     Active Substance: CERTOLIZUMAB PEGOL
     Indication: Product used for unknown indication
     Route: 064
  140. CIMZIA [Concomitant]
     Active Substance: CERTOLIZUMAB PEGOL
     Route: 064
  141. CIMZIA [Concomitant]
     Active Substance: CERTOLIZUMAB PEGOL
     Route: 064
  142. CIMZIA [Concomitant]
     Active Substance: CERTOLIZUMAB PEGOL
     Route: 064
  143. CIMZIA [Concomitant]
     Active Substance: CERTOLIZUMAB PEGOL
     Route: 064
  144. CIMZIA [Concomitant]
     Active Substance: CERTOLIZUMAB PEGOL
     Route: 064
  145. CIMZIA [Concomitant]
     Active Substance: CERTOLIZUMAB PEGOL
     Route: 064
  146. CIMZIA [Concomitant]
     Active Substance: CERTOLIZUMAB PEGOL
     Route: 064
  147. CIMZIA [Concomitant]
     Active Substance: CERTOLIZUMAB PEGOL
     Route: 064
  148. CIMZIA [Concomitant]
     Active Substance: CERTOLIZUMAB PEGOL
     Route: 064
  149. CIMZIA [Concomitant]
     Active Substance: CERTOLIZUMAB PEGOL
     Route: 064
  150. CIMZIA [Concomitant]
     Active Substance: CERTOLIZUMAB PEGOL
     Route: 064
  151. CIMZIA [Concomitant]
     Active Substance: CERTOLIZUMAB PEGOL
     Route: 064
  152. CIMZIA [Concomitant]
     Active Substance: CERTOLIZUMAB PEGOL
     Route: 064
  153. HYDROXYCHLOROQUINE [Concomitant]
     Active Substance: HYDROXYCHLOROQUINE
     Indication: Product used for unknown indication
     Route: 064
  154. HYDROXYCHLOROQUINE [Concomitant]
     Active Substance: HYDROXYCHLOROQUINE
     Route: 064
  155. HYDROXYCHLOROQUINE [Concomitant]
     Active Substance: HYDROXYCHLOROQUINE
     Route: 064
  156. HYDROXYCHLOROQUINE [Concomitant]
     Active Substance: HYDROXYCHLOROQUINE
     Route: 064
  157. HYDROXYCHLOROQUINE [Concomitant]
     Active Substance: HYDROXYCHLOROQUINE
     Route: 064
  158. HYDROXYCHLOROQUINE [Concomitant]
     Active Substance: HYDROXYCHLOROQUINE
     Route: 064
  159. HYDROXYCHLOROQUINE [Concomitant]
     Active Substance: HYDROXYCHLOROQUINE
     Route: 064
  160. HYDROXYCHLOROQUINE [Concomitant]
     Active Substance: HYDROXYCHLOROQUINE
     Route: 064
  161. HYDROXYCHLOROQUINE [Concomitant]
     Active Substance: HYDROXYCHLOROQUINE
     Route: 064
  162. HYDROXYCHLOROQUINE [Concomitant]
     Active Substance: HYDROXYCHLOROQUINE
     Route: 064
  163. HYDROXYCHLOROQUINE [Concomitant]
     Active Substance: HYDROXYCHLOROQUINE
     Route: 064
  164. HYDROXYCHLOROQUINE [Concomitant]
     Active Substance: HYDROXYCHLOROQUINE
     Route: 064
  165. HYDROXYCHLOROQUINE [Concomitant]
     Active Substance: HYDROXYCHLOROQUINE
     Route: 064
  166. HYDROXYCHLOROQUINE [Concomitant]
     Active Substance: HYDROXYCHLOROQUINE
     Route: 064
  167. HYDROXYCHLOROQUINE [Concomitant]
     Active Substance: HYDROXYCHLOROQUINE
     Route: 064
  168. HYDROXYCHLOROQUINE [Concomitant]
     Active Substance: HYDROXYCHLOROQUINE
     Route: 064
  169. HYDROXYCHLOROQUINE [Concomitant]
     Active Substance: HYDROXYCHLOROQUINE
     Route: 064
  170. HYDROXYCHLOROQUINE [Concomitant]
     Active Substance: HYDROXYCHLOROQUINE
     Route: 064
  171. HYDROXYCHLOROQUINE [Concomitant]
     Active Substance: HYDROXYCHLOROQUINE
     Route: 064
  172. HYDROXYCHLOROQUINE [Concomitant]
     Active Substance: HYDROXYCHLOROQUINE
     Route: 064
  173. HYDROXYCHLOROQUINE [Concomitant]
     Active Substance: HYDROXYCHLOROQUINE
     Route: 064
  174. HYDROXYCHLOROQUINE [Concomitant]
     Active Substance: HYDROXYCHLOROQUINE
     Route: 064
  175. HYDROXYCHLOROQUINE [Concomitant]
     Active Substance: HYDROXYCHLOROQUINE
     Route: 064
  176. HYDROXYCHLOROQUINE [Concomitant]
     Active Substance: HYDROXYCHLOROQUINE
     Route: 064
  177. HYDROXYCHLOROQUINE [Concomitant]
     Active Substance: HYDROXYCHLOROQUINE
     Route: 064
  178. HYDROXYCHLOROQUINE [Concomitant]
     Active Substance: HYDROXYCHLOROQUINE
     Route: 064
  179. HYDROXYCHLOROQUINE [Concomitant]
     Active Substance: HYDROXYCHLOROQUINE
     Route: 064
  180. HYDROXYCHLOROQUINE [Concomitant]
     Active Substance: HYDROXYCHLOROQUINE
     Route: 064
  181. HYDROXYCHLOROQUINE [Concomitant]
     Active Substance: HYDROXYCHLOROQUINE
     Route: 064
  182. DESOXIMETASONE [Concomitant]
     Active Substance: DESOXIMETASONE
     Indication: Product used for unknown indication
     Route: 064
  183. DESOXIMETASONE [Concomitant]
     Active Substance: DESOXIMETASONE
     Route: 064
  184. DESOXIMETASONE [Concomitant]
     Active Substance: DESOXIMETASONE
     Route: 064
  185. DESOXIMETASONE [Concomitant]
     Active Substance: DESOXIMETASONE
     Route: 064
  186. DESOXIMETASONE [Concomitant]
     Active Substance: DESOXIMETASONE
     Route: 064
  187. DESOXIMETASONE [Concomitant]
     Active Substance: DESOXIMETASONE
     Route: 064
  188. DESOXIMETASONE [Concomitant]
     Active Substance: DESOXIMETASONE
     Route: 064
  189. DESOXIMETASONE [Concomitant]
     Active Substance: DESOXIMETASONE
     Route: 064
  190. DESOXIMETASONE [Concomitant]
     Active Substance: DESOXIMETASONE
     Route: 064
  191. DESOXIMETASONE [Concomitant]
     Active Substance: DESOXIMETASONE
     Route: 064
  192. DESOXIMETASONE [Concomitant]
     Active Substance: DESOXIMETASONE
     Route: 064
  193. DESOXIMETASONE [Concomitant]
     Active Substance: DESOXIMETASONE
     Route: 064
  194. DESOXIMETASONE [Concomitant]
     Active Substance: DESOXIMETASONE
     Route: 064
  195. DESOXIMETASONE [Concomitant]
     Active Substance: DESOXIMETASONE
     Route: 064
  196. DESOXIMETASONE [Concomitant]
     Active Substance: DESOXIMETASONE
     Route: 064
  197. DESOXIMETASONE [Concomitant]
     Active Substance: DESOXIMETASONE
     Route: 064
  198. DICLOFENAC [Concomitant]
     Active Substance: DICLOFENAC
     Indication: Product used for unknown indication
     Route: 064
  199. DICLOFENAC [Concomitant]
     Active Substance: DICLOFENAC
     Route: 064
  200. DICLOFENAC [Concomitant]
     Active Substance: DICLOFENAC
     Route: 064
  201. DICLOFENAC SODIUM [Concomitant]
     Active Substance: DICLOFENAC\DICLOFENAC SODIUM
     Indication: Product used for unknown indication
     Route: 064
  202. DICLOFENAC SODIUM [Concomitant]
     Active Substance: DICLOFENAC\DICLOFENAC SODIUM
     Route: 064
  203. DICLOFENAC SODIUM [Concomitant]
     Active Substance: DICLOFENAC\DICLOFENAC SODIUM
     Route: 064
  204. DICLOFENAC SODIUM [Concomitant]
     Active Substance: DICLOFENAC\DICLOFENAC SODIUM
     Route: 064
  205. DICLOFENAC SODIUM [Concomitant]
     Active Substance: DICLOFENAC\DICLOFENAC SODIUM
     Route: 064
  206. ENBREL [Concomitant]
     Active Substance: BENZYL ALCOHOL\ETANERCEPT
     Indication: Product used for unknown indication
     Route: 064
  207. ENBREL [Concomitant]
     Active Substance: BENZYL ALCOHOL\ETANERCEPT
     Route: 064
  208. ENBREL [Concomitant]
     Active Substance: BENZYL ALCOHOL\ETANERCEPT
     Route: 064
  209. ENBREL [Concomitant]
     Active Substance: BENZYL ALCOHOL\ETANERCEPT
     Route: 064
  210. ENBREL [Concomitant]
     Active Substance: BENZYL ALCOHOL\ETANERCEPT
     Route: 064
  211. ENBREL [Concomitant]
     Active Substance: BENZYL ALCOHOL\ETANERCEPT
     Route: 064
  212. ENBREL [Concomitant]
     Active Substance: BENZYL ALCOHOL\ETANERCEPT
     Route: 064
  213. ENBREL [Concomitant]
     Active Substance: BENZYL ALCOHOL\ETANERCEPT
     Route: 064
  214. ENBREL [Concomitant]
     Active Substance: BENZYL ALCOHOL\ETANERCEPT
     Route: 064
  215. ENBREL [Concomitant]
     Active Substance: BENZYL ALCOHOL\ETANERCEPT
     Route: 064
  216. ENBREL [Concomitant]
     Active Substance: BENZYL ALCOHOL\ETANERCEPT
     Route: 064
  217. ENBREL [Concomitant]
     Active Substance: BENZYL ALCOHOL\ETANERCEPT
     Route: 064
  218. ENBREL [Concomitant]
     Active Substance: BENZYL ALCOHOL\ETANERCEPT
     Route: 064
  219. ENBREL [Concomitant]
     Active Substance: BENZYL ALCOHOL\ETANERCEPT
     Route: 064
  220. ENBREL [Concomitant]
     Active Substance: BENZYL ALCOHOL\ETANERCEPT
     Route: 064
  221. FOLIC ACID [Concomitant]
     Active Substance: FOLIC ACID
     Indication: Product used for unknown indication
     Route: 064
  222. FOLIC ACID [Concomitant]
     Active Substance: FOLIC ACID
     Route: 064
  223. FOLIC ACID [Concomitant]
     Active Substance: FOLIC ACID
     Route: 064
  224. FOLIC ACID [Concomitant]
     Active Substance: FOLIC ACID
     Route: 064
  225. FOLIC ACID [Concomitant]
     Active Substance: FOLIC ACID
     Route: 064
  226. FOLIC ACID [Concomitant]
     Active Substance: FOLIC ACID
     Route: 064
  227. FOLIC ACID [Concomitant]
     Active Substance: FOLIC ACID
     Route: 064
  228. FOLIC ACID [Concomitant]
     Active Substance: FOLIC ACID
     Route: 064
  229. FOLIC ACID [Concomitant]
     Active Substance: FOLIC ACID
     Route: 064
  230. FOLIC ACID [Concomitant]
     Active Substance: FOLIC ACID
     Route: 064
  231. FOLIC ACID [Concomitant]
     Active Substance: FOLIC ACID
     Route: 064
  232. FOLIC ACID [Concomitant]
     Active Substance: FOLIC ACID
     Route: 064
  233. FOLIC ACID [Concomitant]
     Active Substance: FOLIC ACID
     Route: 064
  234. FOLIC ACID [Concomitant]
     Active Substance: FOLIC ACID
     Route: 064
  235. FOLIC ACID [Concomitant]
     Active Substance: FOLIC ACID
     Route: 064
  236. FOLIC ACID [Concomitant]
     Active Substance: FOLIC ACID
     Route: 064
  237. FOLIC ACID [Concomitant]
     Active Substance: FOLIC ACID
     Route: 064
  238. FOLIC ACID [Concomitant]
     Active Substance: FOLIC ACID
     Route: 064
  239. FOLIC ACID [Concomitant]
     Active Substance: FOLIC ACID
     Route: 064
  240. FOLIC ACID [Concomitant]
     Active Substance: FOLIC ACID
     Route: 064
  241. FOLIC ACID [Concomitant]
     Active Substance: FOLIC ACID
     Route: 064
  242. FOLIC ACID [Concomitant]
     Active Substance: FOLIC ACID
     Route: 064
  243. FOLIC ACID [Concomitant]
     Active Substance: FOLIC ACID
     Route: 064
  244. FOLIC ACID [Concomitant]
     Active Substance: FOLIC ACID
     Route: 064
  245. FOLIC ACID [Concomitant]
     Active Substance: FOLIC ACID
     Route: 064
  246. FOLIC ACID [Concomitant]
     Active Substance: FOLIC ACID
     Route: 064
  247. FOLIC ACID [Concomitant]
     Active Substance: FOLIC ACID
     Route: 064
  248. FOLIC ACID [Concomitant]
     Active Substance: FOLIC ACID
     Route: 064
  249. FOSAMAX [Concomitant]
     Active Substance: ALENDRONATE SODIUM
     Indication: Product used for unknown indication
     Route: 064
  250. FOSAMAX [Concomitant]
     Active Substance: ALENDRONATE SODIUM
     Route: 064
  251. FOSAMAX [Concomitant]
     Active Substance: ALENDRONATE SODIUM
     Route: 064
  252. FOSAMAX [Concomitant]
     Active Substance: ALENDRONATE SODIUM
     Route: 064
  253. FOSAMAX [Concomitant]
     Active Substance: ALENDRONATE SODIUM
     Route: 064
  254. FOSAMAX [Concomitant]
     Active Substance: ALENDRONATE SODIUM
     Route: 064
  255. FOSAMAX [Concomitant]
     Active Substance: ALENDRONATE SODIUM
     Route: 064
  256. FOSAMAX [Concomitant]
     Active Substance: ALENDRONATE SODIUM
     Route: 064
  257. FOSAMAX [Concomitant]
     Active Substance: ALENDRONATE SODIUM
     Route: 064
  258. FOSAMAX [Concomitant]
     Active Substance: ALENDRONATE SODIUM
     Route: 064
  259. FOSAMAX [Concomitant]
     Active Substance: ALENDRONATE SODIUM
     Route: 064
  260. FOSAMAX [Concomitant]
     Active Substance: ALENDRONATE SODIUM
     Route: 064
  261. FOSAMAX [Concomitant]
     Active Substance: ALENDRONATE SODIUM
     Route: 064
  262. FOSAMAX [Concomitant]
     Active Substance: ALENDRONATE SODIUM
     Route: 064
  263. HUMIRA [Concomitant]
     Active Substance: ADALIMUMAB
     Indication: Product used for unknown indication
     Route: 064
  264. HUMIRA [Concomitant]
     Active Substance: ADALIMUMAB
     Dosage: SOLUTION SUBCUTANEOUS
     Route: 064
  265. HUMIRA [Concomitant]
     Active Substance: ADALIMUMAB
     Dosage: SOLUTION SUBCUTANEOUS
     Route: 064
  266. HUMIRA [Concomitant]
     Active Substance: ADALIMUMAB
     Dosage: SOLUTION SUBCUTANEOUS
     Route: 064
  267. HUMIRA [Concomitant]
     Active Substance: ADALIMUMAB
     Dosage: SOLUTION SUBCUTANEOUS
     Route: 064
  268. HUMIRA [Concomitant]
     Active Substance: ADALIMUMAB
     Route: 064
  269. HUMIRA [Concomitant]
     Active Substance: ADALIMUMAB
     Route: 064
  270. HUMIRA [Concomitant]
     Active Substance: ADALIMUMAB
     Route: 064
  271. HUMIRA [Concomitant]
     Active Substance: ADALIMUMAB
     Route: 064
  272. HUMIRA [Concomitant]
     Active Substance: ADALIMUMAB
     Route: 064
  273. HUMIRA [Concomitant]
     Active Substance: ADALIMUMAB
     Route: 064
  274. HUMIRA [Concomitant]
     Active Substance: ADALIMUMAB
     Dosage: SOLUTION SUBCUTANEOUS
     Route: 064
  275. HUMIRA [Concomitant]
     Active Substance: ADALIMUMAB
     Route: 064
  276. HUMIRA [Concomitant]
     Active Substance: ADALIMUMAB
     Route: 064
  277. HUMIRA [Concomitant]
     Active Substance: ADALIMUMAB
     Route: 064
  278. HUMIRA [Concomitant]
     Active Substance: ADALIMUMAB
     Route: 064
  279. HUMIRA [Concomitant]
     Active Substance: ADALIMUMAB
     Route: 064
  280. HYDROCORTISONE ACETATE [Concomitant]
     Active Substance: HYDROCORTISONE ACETATE
     Indication: Product used for unknown indication
     Route: 064
  281. INFLIXIMAB [Concomitant]
     Active Substance: INFLIXIMAB
     Indication: Product used for unknown indication
     Route: 064
  282. INFLIXIMAB [Concomitant]
     Active Substance: INFLIXIMAB
     Route: 064
  283. INFLIXIMAB [Concomitant]
     Active Substance: INFLIXIMAB
     Route: 064
  284. INFLIXIMAB [Concomitant]
     Active Substance: INFLIXIMAB
     Route: 064
  285. INFLIXIMAB [Concomitant]
     Active Substance: INFLIXIMAB
     Route: 064
  286. INFLIXIMAB [Concomitant]
     Active Substance: INFLIXIMAB
     Route: 064
  287. INFLIXIMAB [Concomitant]
     Active Substance: INFLIXIMAB
     Route: 064
  288. KEVZARA [Concomitant]
     Active Substance: SARILUMAB
     Indication: Product used for unknown indication
     Route: 064
  289. KEVZARA [Concomitant]
     Active Substance: SARILUMAB
     Route: 064
  290. LEFLUNOMIDE [Concomitant]
     Active Substance: LEFLUNOMIDE
     Indication: Product used for unknown indication
     Route: 064
  291. LEFLUNOMIDE [Concomitant]
     Active Substance: LEFLUNOMIDE
     Route: 064
  292. LEFLUNOMIDE [Concomitant]
     Active Substance: LEFLUNOMIDE
     Route: 064
  293. LEFLUNOMIDE [Concomitant]
     Active Substance: LEFLUNOMIDE
     Route: 064
  294. LEFLUNOMIDE [Concomitant]
     Active Substance: LEFLUNOMIDE
     Route: 064
  295. LEFLUNOMIDE [Concomitant]
     Active Substance: LEFLUNOMIDE
     Route: 064
  296. LEFLUNOMIDE [Concomitant]
     Active Substance: LEFLUNOMIDE
     Route: 064
  297. LEFLUNOMIDE [Concomitant]
     Active Substance: LEFLUNOMIDE
     Route: 064
  298. LEFLUNOMIDE [Concomitant]
     Active Substance: LEFLUNOMIDE
     Route: 064
  299. LEFLUNOMIDE [Concomitant]
     Active Substance: LEFLUNOMIDE
     Route: 064
  300. LEFLUNOMIDE [Concomitant]
     Active Substance: LEFLUNOMIDE
     Route: 064
  301. LEFLUNOMIDE [Concomitant]
     Active Substance: LEFLUNOMIDE
     Route: 064
  302. LEFLUNOMIDE [Concomitant]
     Active Substance: LEFLUNOMIDE
     Route: 064
  303. LEFLUNOMIDE [Concomitant]
     Active Substance: LEFLUNOMIDE
     Route: 064
  304. LEFLUNOMIDE [Concomitant]
     Active Substance: LEFLUNOMIDE
     Route: 064
  305. LEFLUNOMIDE [Concomitant]
     Active Substance: LEFLUNOMIDE
     Route: 064
  306. LEFLUNOMIDE [Concomitant]
     Active Substance: LEFLUNOMIDE
     Route: 064
  307. METHOTREXATE [Concomitant]
     Active Substance: METHOTREXATE
     Indication: Product used for unknown indication
     Route: 064
  308. METHOTREXATE [Concomitant]
     Active Substance: METHOTREXATE
     Route: 064
  309. METHOTREXATE [Concomitant]
     Active Substance: METHOTREXATE
     Route: 064
  310. METHOTREXATE [Concomitant]
     Active Substance: METHOTREXATE
     Route: 064
  311. METHOTREXATE [Concomitant]
     Active Substance: METHOTREXATE
     Route: 064
  312. METHOTREXATE [Concomitant]
     Active Substance: METHOTREXATE
     Route: 064
  313. METHOTREXATE [Concomitant]
     Active Substance: METHOTREXATE
     Route: 064
  314. METHOTREXATE [Concomitant]
     Active Substance: METHOTREXATE
     Route: 064
  315. METHOTREXATE [Concomitant]
     Active Substance: METHOTREXATE
     Route: 064
  316. METHOTREXATE [Concomitant]
     Active Substance: METHOTREXATE
     Route: 064
  317. METHOTREXATE [Concomitant]
     Active Substance: METHOTREXATE
     Route: 064
  318. METHOTREXATE [Concomitant]
     Active Substance: METHOTREXATE
     Route: 064
  319. METHOTREXATE [Concomitant]
     Active Substance: METHOTREXATE
     Route: 064
  320. METHOTREXATE [Concomitant]
     Active Substance: METHOTREXATE
     Route: 064
  321. METHOTREXATE [Concomitant]
     Active Substance: METHOTREXATE
     Route: 064
  322. METHOTREXATE [Concomitant]
     Active Substance: METHOTREXATE
     Route: 064
  323. METHOTREXATE [Concomitant]
     Active Substance: METHOTREXATE
     Route: 064
  324. METHOTREXATE [Concomitant]
     Active Substance: METHOTREXATE
     Route: 064
  325. METHOTREXATE [Concomitant]
     Active Substance: METHOTREXATE
     Route: 064
  326. METHOTREXATE [Concomitant]
     Active Substance: METHOTREXATE
     Route: 064
  327. METHOTREXATE [Concomitant]
     Active Substance: METHOTREXATE
     Route: 064
  328. METHOTREXATE [Concomitant]
     Active Substance: METHOTREXATE
     Route: 064
  329. METHOTREXATE [Concomitant]
     Active Substance: METHOTREXATE
     Route: 064
  330. METHOTREXATE [Concomitant]
     Active Substance: METHOTREXATE
     Route: 064
  331. METHOTREXATE [Concomitant]
     Active Substance: METHOTREXATE
     Route: 064
  332. METHOTREXATE [Concomitant]
     Active Substance: METHOTREXATE
     Route: 064
  333. METHOTREXATE [Concomitant]
     Active Substance: METHOTREXATE
     Route: 064
  334. METHOTREXATE [Concomitant]
     Active Substance: METHOTREXATE
     Route: 064
  335. METHOTREXATE [Concomitant]
     Active Substance: METHOTREXATE
     Route: 064
  336. METHOTREXATE [Concomitant]
     Active Substance: METHOTREXATE
     Route: 064
  337. METHOTREXATE [Concomitant]
     Active Substance: METHOTREXATE
     Route: 064
  338. METHOTREXATE [Concomitant]
     Active Substance: METHOTREXATE
     Route: 064
  339. METHOTREXATE [Concomitant]
     Active Substance: METHOTREXATE
     Route: 064
  340. METHOTREXATE [Concomitant]
     Active Substance: METHOTREXATE
     Route: 064
  341. METHOTREXATE [Concomitant]
     Active Substance: METHOTREXATE
     Route: 064
  342. METHOTREXATE [Concomitant]
     Active Substance: METHOTREXATE
     Route: 064
  343. METHOTREXATE [Concomitant]
     Active Substance: METHOTREXATE
     Route: 064
  344. METHOTREXATE [Concomitant]
     Active Substance: METHOTREXATE
     Route: 064
  345. METHOTREXATE [Concomitant]
     Active Substance: METHOTREXATE
     Route: 064
  346. METHOTREXATE [Concomitant]
     Active Substance: METHOTREXATE
     Route: 064
  347. METHOTREXATE [Concomitant]
     Active Substance: METHOTREXATE
     Route: 064
  348. METHOTREXATE [Concomitant]
     Active Substance: METHOTREXATE
     Route: 064
  349. METHOTREXATE [Concomitant]
     Active Substance: METHOTREXATE
     Route: 064
  350. METHOTREXATE [Concomitant]
     Active Substance: METHOTREXATE
     Route: 064
  351. METHOTREXATE [Concomitant]
     Active Substance: METHOTREXATE
     Route: 064
  352. METHOTREXATE [Concomitant]
     Active Substance: METHOTREXATE
     Route: 064
  353. METHOTREXATE [Concomitant]
     Active Substance: METHOTREXATE
     Route: 064
  354. METHOTREXATE [Concomitant]
     Active Substance: METHOTREXATE
     Route: 064
  355. METHOTREXATE [Concomitant]
     Active Substance: METHOTREXATE
     Route: 064
  356. METHOTREXATE [Concomitant]
     Active Substance: METHOTREXATE
     Route: 064
  357. METHOTREXATE [Concomitant]
     Active Substance: METHOTREXATE
     Route: 064
  358. METHOTREXATE [Concomitant]
     Active Substance: METHOTREXATE
     Route: 064
  359. METHOTREXATE [Concomitant]
     Active Substance: METHOTREXATE
     Route: 064
  360. METHOTREXATE [Concomitant]
     Active Substance: METHOTREXATE
     Route: 064
  361. METHOTREXATE [Concomitant]
     Active Substance: METHOTREXATE
     Route: 064
  362. METHOTREXATE [Concomitant]
     Active Substance: METHOTREXATE
     Route: 064
  363. METHOTREXATE [Concomitant]
     Active Substance: METHOTREXATE
     Route: 064
  364. METHOTREXATE [Concomitant]
     Active Substance: METHOTREXATE
     Route: 064
  365. METHOTREXATE [Concomitant]
     Active Substance: METHOTREXATE
     Route: 064
  366. METHOTREXATE [Concomitant]
     Active Substance: METHOTREXATE
     Route: 064
  367. METHOTREXATE [Concomitant]
     Active Substance: METHOTREXATE
     Route: 064
  368. METHOTREXATE [Concomitant]
     Active Substance: METHOTREXATE
     Route: 064
  369. METHOTREXATE [Concomitant]
     Active Substance: METHOTREXATE
     Route: 064
  370. METHOTREXATE [Concomitant]
     Active Substance: METHOTREXATE
     Route: 064
  371. METHOTREXATE [Concomitant]
     Active Substance: METHOTREXATE
     Route: 064
  372. METHOTREXATE SODIUM [Concomitant]
     Active Substance: METHOTREXATE SODIUM
     Indication: Product used for unknown indication
     Route: 064
  373. METHOTREXATE SODIUM [Concomitant]
     Active Substance: METHOTREXATE SODIUM
     Route: 064
  374. METHOTREXATE SODIUM [Concomitant]
     Active Substance: METHOTREXATE SODIUM
     Route: 064
  375. METHOTREXATE SODIUM [Concomitant]
     Active Substance: METHOTREXATE SODIUM
     Route: 064
  376. OXYCODONE [Concomitant]
     Active Substance: OXYCODONE
     Indication: Product used for unknown indication
     Route: 064
  377. OXYCODONE TEREPHTHALATE [Concomitant]
     Active Substance: OXYCODONE TEREPHTHALATE
     Indication: Product used for unknown indication
     Route: 064
  378. OXYCODONE TEREPHTHALATE [Concomitant]
     Active Substance: OXYCODONE TEREPHTHALATE
     Route: 064
  379. PERIOGARD [Concomitant]
     Active Substance: CHLORHEXIDINE GLUCONATE
     Indication: Product used for unknown indication
     Dosage: ALCOHOL FREE
     Route: 064
  380. PERIOGARD [Concomitant]
     Active Substance: CHLORHEXIDINE GLUCONATE
     Dosage: ALCOHOL FREE
     Route: 064
  381. PERIOGARD [Concomitant]
     Active Substance: CHLORHEXIDINE GLUCONATE
     Route: 064
  382. PHTHALYLSULFATHIAZOLE [Concomitant]
     Active Substance: PHTHALYLSULFATHIAZOLE
     Indication: Product used for unknown indication
     Route: 064
  383. PHTHALYLSULFATHIAZOLE [Concomitant]
     Active Substance: PHTHALYLSULFATHIAZOLE
     Route: 064
  384. PHTHALYLSULFATHIAZOLE [Concomitant]
     Active Substance: PHTHALYLSULFATHIAZOLE
     Route: 064
  385. PHTHALYLSULFATHIAZOLE [Concomitant]
     Active Substance: PHTHALYLSULFATHIAZOLE
     Route: 064
  386. PHTHALYLSULFATHIAZOLE [Concomitant]
     Active Substance: PHTHALYLSULFATHIAZOLE
     Dosage: 365 DAYS
     Route: 064
  387. PHTHALYLSULFATHIAZOLE [Concomitant]
     Active Substance: PHTHALYLSULFATHIAZOLE
     Route: 064
  388. PHTHALYLSULFATHIAZOLE [Concomitant]
     Active Substance: PHTHALYLSULFATHIAZOLE
     Route: 064
  389. PHTHALYLSULFATHIAZOLE [Concomitant]
     Active Substance: PHTHALYLSULFATHIAZOLE
     Route: 064
  390. PHTHALYLSULFATHIAZOLE [Concomitant]
     Active Substance: PHTHALYLSULFATHIAZOLE
     Route: 064
  391. PHTHALYLSULFATHIAZOLE [Concomitant]
     Active Substance: PHTHALYLSULFATHIAZOLE
     Route: 064
  392. PHTHALYLSULFATHIAZOLE [Concomitant]
     Active Substance: PHTHALYLSULFATHIAZOLE
     Route: 064
  393. PHTHALYLSULFATHIAZOLE [Concomitant]
     Active Substance: PHTHALYLSULFATHIAZOLE
     Route: 064
  394. PHTHALYLSULFATHIAZOLE [Concomitant]
     Active Substance: PHTHALYLSULFATHIAZOLE
     Route: 064
  395. PHTHALYLSULFATHIAZOLE [Concomitant]
     Active Substance: PHTHALYLSULFATHIAZOLE
     Route: 064
  396. PHTHALYLSULFATHIAZOLE [Concomitant]
     Active Substance: PHTHALYLSULFATHIAZOLE
     Route: 064
  397. PHTHALYLSULFATHIAZOLE [Concomitant]
     Active Substance: PHTHALYLSULFATHIAZOLE
     Route: 064
  398. PHTHALYLSULFATHIAZOLE [Concomitant]
     Active Substance: PHTHALYLSULFATHIAZOLE
     Route: 064
  399. PHTHALYLSULFATHIAZOLE [Concomitant]
     Active Substance: PHTHALYLSULFATHIAZOLE
     Route: 064
  400. PHTHALYLSULFATHIAZOLE [Concomitant]
     Active Substance: PHTHALYLSULFATHIAZOLE
     Route: 064
  401. HYDROXYCHLOROQUINE DIPHOSPHATE [Concomitant]
     Active Substance: HYDROXYCHLOROQUINE DIPHOSPHATE
     Indication: Product used for unknown indication
     Route: 064
  402. HYDROXYCHLOROQUINE DIPHOSPHATE [Concomitant]
     Active Substance: HYDROXYCHLOROQUINE DIPHOSPHATE
     Route: 064
  403. HYDROXYCHLOROQUINE DIPHOSPHATE [Concomitant]
     Active Substance: HYDROXYCHLOROQUINE DIPHOSPHATE
     Route: 064
  404. HYDROXYCHLOROQUINE DIPHOSPHATE [Concomitant]
     Active Substance: HYDROXYCHLOROQUINE DIPHOSPHATE
     Route: 064
  405. HYDROXYCHLOROQUINE DIPHOSPHATE [Concomitant]
     Active Substance: HYDROXYCHLOROQUINE DIPHOSPHATE
     Route: 064
  406. HYDROXYCHLOROQUINE DIPHOSPHATE [Concomitant]
     Active Substance: HYDROXYCHLOROQUINE DIPHOSPHATE
     Route: 064
  407. HYDROXYCHLOROQUINE DIPHOSPHATE [Concomitant]
     Active Substance: HYDROXYCHLOROQUINE DIPHOSPHATE
     Route: 064
  408. PREDNISONE [Concomitant]
     Active Substance: PREDNISONE
     Indication: Product used for unknown indication
     Route: 064
  409. PREDNISONE [Concomitant]
     Active Substance: PREDNISONE
     Route: 064
  410. PREDNISONE [Concomitant]
     Active Substance: PREDNISONE
     Route: 064
  411. PREDNISONE [Concomitant]
     Active Substance: PREDNISONE
     Dosage: 365 DAYS
     Route: 064
  412. PREDNISONE [Concomitant]
     Active Substance: PREDNISONE
     Route: 064
  413. PREDNISONE [Concomitant]
     Active Substance: PREDNISONE
     Route: 064
  414. PREDNISONE [Concomitant]
     Active Substance: PREDNISONE
     Route: 064
  415. PREDNISONE [Concomitant]
     Active Substance: PREDNISONE
     Route: 064
  416. PREDNISONE [Concomitant]
     Active Substance: PREDNISONE
     Route: 064
  417. PREDNISONE [Concomitant]
     Active Substance: PREDNISONE
     Route: 064
  418. PREDNISONE [Concomitant]
     Active Substance: PREDNISONE
     Route: 064
  419. PREDNISONE [Concomitant]
     Active Substance: PREDNISONE
     Route: 064
  420. PREDNISONE [Concomitant]
     Active Substance: PREDNISONE
     Route: 064
  421. PREDNISONE [Concomitant]
     Active Substance: PREDNISONE
     Route: 064
  422. PREDNISONE [Concomitant]
     Active Substance: PREDNISONE
     Route: 064
  423. PREDNISONE [Concomitant]
     Active Substance: PREDNISONE
     Route: 064
  424. PREDNISONE [Concomitant]
     Active Substance: PREDNISONE
     Route: 064
  425. PREDNISONE [Concomitant]
     Active Substance: PREDNISONE
     Route: 064
  426. PREDNISONE [Concomitant]
     Active Substance: PREDNISONE
     Route: 064
  427. PREDNISONE [Concomitant]
     Active Substance: PREDNISONE
     Route: 064
  428. PREDNISONE [Concomitant]
     Active Substance: PREDNISONE
     Route: 064
  429. PREDNISONE [Concomitant]
     Active Substance: PREDNISONE
     Route: 064
  430. PREDNISONE [Concomitant]
     Active Substance: PREDNISONE
     Route: 064
  431. PREDNISONE [Concomitant]
     Active Substance: PREDNISONE
     Route: 064
  432. PSEUDOEPHEDRINE\TRIPROLIDINE [Concomitant]
     Active Substance: PSEUDOEPHEDRINE\TRIPROLIDINE
     Indication: Product used for unknown indication
     Route: 064
  433. PSEUDOEPHEDRINE\TRIPROLIDINE [Concomitant]
     Active Substance: PSEUDOEPHEDRINE\TRIPROLIDINE
     Route: 064
  434. CETIRIZINE HYDROCHLORIDE [Concomitant]
     Active Substance: CETIRIZINE HYDROCHLORIDE
     Indication: Product used for unknown indication
     Route: 064
  435. CETIRIZINE HYDROCHLORIDE [Concomitant]
     Active Substance: CETIRIZINE HYDROCHLORIDE
     Route: 064
  436. CETIRIZINE HYDROCHLORIDE [Concomitant]
     Active Substance: CETIRIZINE HYDROCHLORIDE
     Route: 064
  437. CETIRIZINE HYDROCHLORIDE [Concomitant]
     Active Substance: CETIRIZINE HYDROCHLORIDE
     Route: 064
  438. CETIRIZINE HYDROCHLORIDE [Concomitant]
     Active Substance: CETIRIZINE HYDROCHLORIDE
     Route: 064
  439. CETIRIZINE HYDROCHLORIDE [Concomitant]
     Active Substance: CETIRIZINE HYDROCHLORIDE
     Route: 064
  440. REMICADE [Concomitant]
     Active Substance: INFLIXIMAB
     Indication: Product used for unknown indication
     Dosage: POWDER FOR SOLUTION INTRAVENOUS
     Route: 064
  441. REMICADE [Concomitant]
     Active Substance: INFLIXIMAB
     Route: 064
  442. REMICADE [Concomitant]
     Active Substance: INFLIXIMAB
     Route: 064
  443. REMICADE [Concomitant]
     Active Substance: INFLIXIMAB
     Route: 064
  444. REMICADE [Concomitant]
     Active Substance: INFLIXIMAB
     Dosage: POWDER FOR SOLUTION INTRAVENOUS
     Route: 064
  445. REMICADE [Concomitant]
     Active Substance: INFLIXIMAB
     Route: 064
  446. REMICADE [Concomitant]
     Active Substance: INFLIXIMAB
     Route: 064
  447. REMICADE [Concomitant]
     Active Substance: INFLIXIMAB
     Route: 064
  448. REMICADE [Concomitant]
     Active Substance: INFLIXIMAB
     Route: 064
  449. REMICADE [Concomitant]
     Active Substance: INFLIXIMAB
     Route: 064
  450. RITUXIMAB [Concomitant]
     Active Substance: RITUXIMAB
     Indication: Product used for unknown indication
     Route: 064
  451. RITUXIMAB [Concomitant]
     Active Substance: RITUXIMAB
     Route: 064
  452. RITUXIMAB [Concomitant]
     Active Substance: RITUXIMAB
     Route: 064
  453. RITUXIMAB [Concomitant]
     Active Substance: RITUXIMAB
     Route: 064
  454. RITUXIMAB [Concomitant]
     Active Substance: RITUXIMAB
     Route: 064
  455. RITUXIMAB [Concomitant]
     Active Substance: RITUXIMAB
     Route: 064
  456. RITUXIMAB [Concomitant]
     Active Substance: RITUXIMAB
     Route: 064
  457. RITUXIMAB [Concomitant]
     Active Substance: RITUXIMAB
     Route: 064
  458. RITUXIMAB [Concomitant]
     Active Substance: RITUXIMAB
     Route: 064
  459. SARILUMAB [Concomitant]
     Active Substance: SARILUMAB
     Indication: Product used for unknown indication
     Route: 064
  460. SIMPONI [Concomitant]
     Active Substance: GOLIMUMAB
     Indication: Product used for unknown indication
     Route: 064
  461. SIMPONI [Concomitant]
     Active Substance: GOLIMUMAB
     Route: 064
  462. SIMPONI [Concomitant]
     Active Substance: GOLIMUMAB
     Dosage: SOLUTION SUBCUTANEOUS
     Route: 064
  463. SIMPONI [Concomitant]
     Active Substance: GOLIMUMAB
     Route: 064
  464. SIMPONI [Concomitant]
     Active Substance: GOLIMUMAB
     Dosage: SOLUTION SUBCUTANEOUS
     Route: 064
  465. SIMPONI [Concomitant]
     Active Substance: GOLIMUMAB
     Dosage: SOLUTION SUBCUTANEOUS
     Route: 064
  466. SIMPONI [Concomitant]
     Active Substance: GOLIMUMAB
     Dosage: SOLUTION SUBCUTANEOUS
     Route: 064
  467. SIMPONI [Concomitant]
     Active Substance: GOLIMUMAB
     Route: 064
  468. SIMPONI [Concomitant]
     Active Substance: GOLIMUMAB
     Dosage: SOLUTION SUBCUTANEOUS
     Route: 064
  469. SIMPONI [Concomitant]
     Active Substance: GOLIMUMAB
     Route: 064
  470. SIMPONI [Concomitant]
     Active Substance: GOLIMUMAB
     Route: 064
  471. STELARA [Concomitant]
     Active Substance: USTEKINUMAB
     Indication: Product used for unknown indication
     Dosage: SOLUTION SUBCUTANEOUS
     Route: 064
  472. STELARA [Concomitant]
     Active Substance: USTEKINUMAB
     Route: 064
  473. STELARA [Concomitant]
     Active Substance: USTEKINUMAB
     Route: 064
  474. STELARA [Concomitant]
     Active Substance: USTEKINUMAB
     Route: 064
  475. STELARA [Concomitant]
     Active Substance: USTEKINUMAB
     Route: 064
  476. STELARA [Concomitant]
     Active Substance: USTEKINUMAB
     Route: 064
  477. SULFAMETHOXAZOLE [Concomitant]
     Active Substance: SULFAMETHOXAZOLE
     Indication: Product used for unknown indication
     Route: 064
  478. SULFAMETHOXAZOLE AND TRIMETHOPRIM [Concomitant]
     Active Substance: SULFAMETHOXAZOLE\TRIMETHOPRIM
     Indication: Product used for unknown indication
     Route: 064
  479. SULFASALAZINE [Concomitant]
     Active Substance: SULFASALAZINE
     Indication: Product used for unknown indication
     Route: 064
  480. SULFASALAZINE [Concomitant]
     Active Substance: SULFASALAZINE
     Route: 064
  481. SULFASALAZINE [Concomitant]
     Active Substance: SULFASALAZINE
     Route: 064
  482. SULFASALAZINE [Concomitant]
     Active Substance: SULFASALAZINE
     Route: 064
  483. SULFASALAZINE [Concomitant]
     Active Substance: SULFASALAZINE
     Route: 064
  484. SULFASALAZINE [Concomitant]
     Active Substance: SULFASALAZINE
     Route: 064
  485. SULFASALAZINE [Concomitant]
     Active Substance: SULFASALAZINE
     Route: 064
  486. SULFASALAZINE [Concomitant]
     Active Substance: SULFASALAZINE
     Route: 064
  487. SULFASALAZINE [Concomitant]
     Active Substance: SULFASALAZINE
     Route: 064
  488. SULFASALAZINE [Concomitant]
     Active Substance: SULFASALAZINE
     Route: 064
  489. SULFASALAZINE [Concomitant]
     Active Substance: SULFASALAZINE
     Route: 064
  490. SULFASALAZINE [Concomitant]
     Active Substance: SULFASALAZINE
     Route: 064
  491. SULFASALAZINE [Concomitant]
     Active Substance: SULFASALAZINE
     Route: 064
  492. SULFASALAZINE [Concomitant]
     Active Substance: SULFASALAZINE
     Route: 064
  493. SULFASALAZINE [Concomitant]
     Active Substance: SULFASALAZINE
     Route: 064
  494. SULFASALAZINE [Concomitant]
     Active Substance: SULFASALAZINE
     Route: 064
  495. SULFASALAZINE [Concomitant]
     Active Substance: SULFASALAZINE
     Route: 064
  496. SULFASALAZINE [Concomitant]
     Active Substance: SULFASALAZINE
     Route: 064
  497. SULFASALAZINE [Concomitant]
     Active Substance: SULFASALAZINE
     Route: 064
  498. SULFASALAZINE [Concomitant]
     Active Substance: SULFASALAZINE
     Route: 064
  499. SULFASALAZINE [Concomitant]
     Active Substance: SULFASALAZINE
     Route: 064
  500. SULFASALAZINE [Concomitant]
     Active Substance: SULFASALAZINE
     Route: 064
  501. SULFASALAZINE [Concomitant]
     Active Substance: SULFASALAZINE
     Route: 064
  502. SULFASALAZINE [Concomitant]
     Active Substance: SULFASALAZINE
     Route: 064
  503. SULFASALAZINE [Concomitant]
     Active Substance: SULFASALAZINE
     Route: 064
  504. SULFASALAZINE [Concomitant]
     Active Substance: SULFASALAZINE
     Route: 064
  505. SULFASALAZINE [Concomitant]
     Active Substance: SULFASALAZINE
     Route: 064
  506. SULFASALAZINE [Concomitant]
     Active Substance: SULFASALAZINE
     Route: 064
  507. SULFASALAZINE [Concomitant]
     Active Substance: SULFASALAZINE
     Route: 064
  508. SULFASALAZINE [Concomitant]
     Active Substance: SULFASALAZINE
     Route: 064
  509. SULFASALAZINE [Concomitant]
     Active Substance: SULFASALAZINE
     Route: 064
  510. SULFASALAZINE [Concomitant]
     Active Substance: SULFASALAZINE
     Route: 064
  511. SULFASALAZINE [Concomitant]
     Active Substance: SULFASALAZINE
     Route: 064
  512. SULFASALAZINE [Concomitant]
     Active Substance: SULFASALAZINE
     Dosage: SOLUTION SUBCUTANEOUS
     Route: 064
  513. SULFASALAZINE [Concomitant]
     Active Substance: SULFASALAZINE
     Route: 064
  514. SULFASALAZINE [Concomitant]
     Active Substance: SULFASALAZINE
     Route: 064
  515. SULFASALAZINE [Concomitant]
     Active Substance: SULFASALAZINE
     Route: 064
  516. SULFASALAZINE [Concomitant]
     Active Substance: SULFASALAZINE
     Route: 064
  517. SULFASALAZINE [Concomitant]
     Active Substance: SULFASALAZINE
     Route: 064
  518. SULFASALAZINE [Concomitant]
     Active Substance: SULFASALAZINE
     Route: 064
  519. SULFASALAZINE [Concomitant]
     Active Substance: SULFASALAZINE
     Route: 064
  520. SULFASALAZINE [Concomitant]
     Active Substance: SULFASALAZINE
     Route: 064
  521. SULFASALAZINE [Concomitant]
     Active Substance: SULFASALAZINE
     Route: 064
  522. SULFASALAZINE [Concomitant]
     Active Substance: SULFASALAZINE
     Route: 064
  523. SULFASALAZINE [Concomitant]
     Active Substance: SULFASALAZINE
     Route: 064
  524. SULFASALAZINE [Concomitant]
     Active Substance: SULFASALAZINE
     Route: 064
  525. SULFASALAZINE [Concomitant]
     Active Substance: SULFASALAZINE
     Route: 064
  526. SULFASALAZINE [Concomitant]
     Active Substance: SULFASALAZINE
     Route: 064
  527. SULFASALAZINE [Concomitant]
     Active Substance: SULFASALAZINE
     Route: 064
  528. SULFASALAZINE [Concomitant]
     Active Substance: SULFASALAZINE
     Route: 064
  529. SULFASALAZINE [Concomitant]
     Active Substance: SULFASALAZINE
     Route: 064
  530. SULFASALAZINE [Concomitant]
     Active Substance: SULFASALAZINE
     Route: 064
  531. SULFASALAZINE [Concomitant]
     Active Substance: SULFASALAZINE
     Route: 064
  532. SULFASALAZINE [Concomitant]
     Active Substance: SULFASALAZINE
     Route: 064
  533. SULFASALAZINE [Concomitant]
     Active Substance: SULFASALAZINE
     Route: 064
  534. SULFASALAZINE [Concomitant]
     Active Substance: SULFASALAZINE
     Route: 064
  535. SULFASALAZINE [Concomitant]
     Active Substance: SULFASALAZINE
     Route: 064
  536. SULFASALAZINE [Concomitant]
     Active Substance: SULFASALAZINE
     Route: 064
  537. SULFASALAZINE [Concomitant]
     Active Substance: SULFASALAZINE
     Route: 064
  538. SULFASALAZINE [Concomitant]
     Active Substance: SULFASALAZINE
     Route: 064
  539. TOPICORT [Concomitant]
     Active Substance: DESOXIMETASONE
     Indication: Product used for unknown indication
     Route: 064
  540. TOPICORT [Concomitant]
     Active Substance: DESOXIMETASONE
     Route: 064
  541. TOPICORT [Concomitant]
     Active Substance: DESOXIMETASONE
     Route: 064
  542. TOPICORT [Concomitant]
     Active Substance: DESOXIMETASONE
     Route: 064
  543. XELJANZ [Concomitant]
     Active Substance: TOFACITINIB CITRATE
     Indication: Product used for unknown indication
     Route: 064
  544. XELJANZ [Concomitant]
     Active Substance: TOFACITINIB CITRATE
     Route: 064
  545. XELJANZ [Concomitant]
     Active Substance: TOFACITINIB CITRATE
     Route: 064
  546. XELJANZ [Concomitant]
     Active Substance: TOFACITINIB CITRATE
     Route: 064
  547. XELJANZ [Concomitant]
     Active Substance: TOFACITINIB CITRATE
     Route: 064
  548. XELJANZ [Concomitant]
     Active Substance: TOFACITINIB CITRATE
     Route: 064
  549. XELJANZ [Concomitant]
     Active Substance: TOFACITINIB CITRATE
     Route: 064
  550. XELJANZ [Concomitant]
     Active Substance: TOFACITINIB CITRATE
     Route: 064
  551. XELJANZ [Concomitant]
     Active Substance: TOFACITINIB CITRATE
     Route: 064
  552. XELJANZ [Concomitant]
     Active Substance: TOFACITINIB CITRATE
     Route: 064
  553. XELJANZ [Concomitant]
     Active Substance: TOFACITINIB CITRATE
     Route: 064
  554. XELJANZ [Concomitant]
     Active Substance: TOFACITINIB CITRATE
     Route: 064
  555. XELJANZ [Concomitant]
     Active Substance: TOFACITINIB CITRATE
     Route: 064
  556. XELJANZ [Concomitant]
     Active Substance: TOFACITINIB CITRATE
     Route: 064
  557. XELJANZ [Concomitant]
     Active Substance: TOFACITINIB CITRATE
     Route: 064
  558. XELJANZ [Concomitant]
     Active Substance: TOFACITINIB CITRATE
     Route: 064
  559. XELJANZ [Concomitant]
     Active Substance: TOFACITINIB CITRATE
     Route: 064
  560. XELJANZ [Concomitant]
     Active Substance: TOFACITINIB CITRATE
     Route: 064
  561. XELJANZ [Concomitant]
     Active Substance: TOFACITINIB CITRATE
     Route: 064
  562. XELJANZ [Concomitant]
     Active Substance: TOFACITINIB CITRATE
     Route: 064
  563. XELJANZ [Concomitant]
     Active Substance: TOFACITINIB CITRATE
     Route: 064
  564. XELJANZ [Concomitant]
     Active Substance: TOFACITINIB CITRATE
     Route: 064
  565. XELJANZ [Concomitant]
     Active Substance: TOFACITINIB CITRATE
     Route: 064
  566. XELJANZ [Concomitant]
     Active Substance: TOFACITINIB CITRATE
     Route: 064
  567. XELJANZ [Concomitant]
     Active Substance: TOFACITINIB CITRATE
     Route: 064
  568. ACETAMINOPHEN [Concomitant]
     Active Substance: ACETAMINOPHEN
     Indication: Product used for unknown indication
     Route: 064
  569. ACETAMINOPHEN [Concomitant]
     Active Substance: ACETAMINOPHEN
     Route: 064
  570. ACETAMINOPHEN [Concomitant]
     Active Substance: ACETAMINOPHEN
     Route: 064
  571. ACETAMINOPHEN [Concomitant]
     Active Substance: ACETAMINOPHEN
     Route: 064
  572. ACETAMINOPHEN [Concomitant]
     Active Substance: ACETAMINOPHEN
     Route: 064
  573. CAFFEINE CITRATE [Concomitant]
     Active Substance: CAFFEINE CITRATE
     Indication: Product used for unknown indication
     Route: 064
  574. CHOLECALCIFEROL [Concomitant]
     Active Substance: CHOLECALCIFEROL
     Indication: Product used for unknown indication
     Route: 064
  575. CHOLECALCIFEROL [Concomitant]
     Active Substance: CHOLECALCIFEROL
     Route: 064
  576. CHOLECALCIFEROL [Concomitant]
     Active Substance: CHOLECALCIFEROL
     Route: 064
  577. DESOGESTREL\ETHINYL ESTRADIOL [Concomitant]
     Active Substance: DESOGESTREL\ETHINYL ESTRADIOL
     Indication: Product used for unknown indication
     Route: 064
  578. IBUPROFEN [Concomitant]
     Active Substance: IBUPROFEN
     Indication: Product used for unknown indication
     Route: 064
  579. PANTOPRAZOLE SODIUM [Concomitant]
     Active Substance: PANTOPRAZOLE SODIUM
     Indication: Product used for unknown indication
     Route: 064
  580. PANTOPRAZOLE [Concomitant]
     Active Substance: PANTOPRAZOLE
     Indication: Product used for unknown indication
     Route: 064
  581. PANTOPRAZOLE [Concomitant]
     Active Substance: PANTOPRAZOLE
     Route: 064
  582. SULFASALAZINE [Concomitant]
     Active Substance: SULFASALAZINE
     Indication: Product used for unknown indication
     Route: 064
  583. SULFASALAZINE [Concomitant]
     Active Substance: SULFASALAZINE
     Route: 064
  584. TYLENOL [Concomitant]
     Active Substance: ACETAMINOPHEN
     Indication: Product used for unknown indication
     Route: 064
  585. ZESTRIL [Concomitant]
     Active Substance: LISINOPRIL
     Indication: Product used for unknown indication
     Route: 064
  586. CORTISONE [Concomitant]
     Active Substance: CORTISONE
     Indication: Product used for unknown indication
     Route: 064
  587. CORTISONE [Concomitant]
     Active Substance: CORTISONE
     Route: 064
  588. CORTISONE [Concomitant]
     Active Substance: CORTISONE
     Route: 064
  589. CORTISONE [Concomitant]
     Active Substance: CORTISONE
     Route: 064
  590. CORTISONE [Concomitant]
     Active Substance: CORTISONE
     Route: 064
  591. CORTISONE [Concomitant]
     Active Substance: CORTISONE
     Route: 064
  592. CORTISONE ACETATE [Concomitant]
     Active Substance: CORTISONE ACETATE
     Indication: Product used for unknown indication
     Route: 064
  593. CORTISONE ACETATE [Concomitant]
     Active Substance: CORTISONE ACETATE
     Route: 064
  594. CORTISONE ACETATE [Concomitant]
     Active Substance: CORTISONE ACETATE
     Route: 064
  595. CORTISONE ACETATE [Concomitant]
     Active Substance: CORTISONE ACETATE
     Route: 064
  596. CORTISONE ACETATE [Concomitant]
     Active Substance: CORTISONE ACETATE
     Route: 064
  597. CORTISONE ACETATE [Concomitant]
     Active Substance: CORTISONE ACETATE
     Route: 064
  598. CORTISONE ACETATE [Concomitant]
     Active Substance: CORTISONE ACETATE
     Route: 064
  599. CORTISONE ACETATE [Concomitant]
     Active Substance: CORTISONE ACETATE
     Route: 064
  600. CORTISONE ACETATE [Concomitant]
     Active Substance: CORTISONE ACETATE
     Route: 064
  601. CORTISONE ACETATE [Concomitant]
     Active Substance: CORTISONE ACETATE
     Route: 064
  602. CORTISONE ACETATE [Concomitant]
     Active Substance: CORTISONE ACETATE
     Route: 064
  603. CORTISONE ACETATE [Concomitant]
     Active Substance: CORTISONE ACETATE
     Route: 064
  604. DICLOFENAC SODIUM [Concomitant]
     Active Substance: DICLOFENAC\DICLOFENAC SODIUM
     Indication: Product used for unknown indication
     Route: 064
  605. DICLOFENAC SODIUM [Concomitant]
     Active Substance: DICLOFENAC\DICLOFENAC SODIUM
     Route: 064
  606. DICLOFENAC SODIUM [Concomitant]
     Active Substance: DICLOFENAC\DICLOFENAC SODIUM
     Route: 064
  607. DICLOFENAC SODIUM [Concomitant]
     Active Substance: DICLOFENAC\DICLOFENAC SODIUM
     Route: 064
  608. DICLOFENAC SODIUM [Concomitant]
     Active Substance: DICLOFENAC\DICLOFENAC SODIUM
     Route: 064
  609. DICLOFENAC SODIUM [Concomitant]
     Active Substance: DICLOFENAC\DICLOFENAC SODIUM
     Route: 064
  610. ATIVAN [Concomitant]
     Active Substance: LORAZEPAM
     Indication: Product used for unknown indication
     Route: 064
  611. AZATHIOPRINE [Concomitant]
     Active Substance: AZATHIOPRINE
     Indication: Product used for unknown indication
     Route: 064
  612. CAFFEINE [Concomitant]
     Active Substance: CAFFEINE
     Indication: Product used for unknown indication
     Route: 064
  613. CALCIUM CARBONATE [Concomitant]
     Active Substance: CALCIUM CARBONATE
     Indication: Product used for unknown indication
     Route: 064
  614. CALCIUM GLUBIONATE [Concomitant]
     Active Substance: CALCIUM GLUBIONATE
     Indication: Product used for unknown indication
     Route: 064
  615. CALCIUM GLUBIONATE [Concomitant]
     Active Substance: CALCIUM GLUBIONATE
     Route: 064
  616. CALCIUM GLUCONATE [Concomitant]
     Active Substance: CALCIUM GLUCONATE
     Indication: Product used for unknown indication
     Route: 064
  617. CELEBREX [Concomitant]
     Active Substance: CELECOXIB
     Indication: Product used for unknown indication
     Route: 064
  618. CELEBREX [Concomitant]
     Active Substance: CELECOXIB
     Route: 064
  619. CELEBREX [Concomitant]
     Active Substance: CELECOXIB
     Route: 064
  620. CELEBREX [Concomitant]
     Active Substance: CELECOXIB
     Route: 064
  621. CELEBREX [Concomitant]
     Active Substance: CELECOXIB
     Route: 064
  622. CELEBREX [Concomitant]
     Active Substance: CELECOXIB
     Route: 064
  623. CELEBREX [Concomitant]
     Active Substance: CELECOXIB
     Route: 064
  624. CHLORAPREP [Concomitant]
     Active Substance: CHLORHEXIDINE GLUCONATE\ISOPROPYL ALCOHOL
     Indication: Product used for unknown indication
     Route: 064
  625. CHLORAPREP [Concomitant]
     Active Substance: CHLORHEXIDINE GLUCONATE\ISOPROPYL ALCOHOL
     Route: 064
  626. CHLORAPREP [Concomitant]
     Active Substance: CHLORHEXIDINE GLUCONATE\ISOPROPYL ALCOHOL
     Route: 064
  627. CHLORHEXIDINE GLUCONATE\ISOPROPYL ALCOHOL [Concomitant]
     Active Substance: CHLORHEXIDINE GLUCONATE\ISOPROPYL ALCOHOL
     Indication: Product used for unknown indication
     Route: 064
  628. CHLORHEXIDINE GLUCONATE\ISOPROPYL ALCOHOL [Concomitant]
     Active Substance: CHLORHEXIDINE GLUCONATE\ISOPROPYL ALCOHOL
     Route: 064
  629. CODEINE [Concomitant]
     Active Substance: CODEINE
     Indication: Product used for unknown indication
     Route: 064
  630. CORTISONE (HYDROCORTISONE) [Concomitant]
     Active Substance: HYDROCORTISONE
     Indication: Product used for unknown indication
     Route: 064
  631. CORTISONE (HYDROCORTISONE) [Concomitant]
     Active Substance: HYDROCORTISONE
     Route: 064
  632. CORTISONE (HYDROCORTISONE) [Concomitant]
     Active Substance: HYDROCORTISONE
     Route: 064
  633. CORTISONE (HYDROCORTISONE) [Concomitant]
     Active Substance: HYDROCORTISONE
     Route: 064
  634. COSENTYX [Concomitant]
     Active Substance: SECUKINUMAB
     Indication: Product used for unknown indication
     Route: 064
  635. COSENTYX [Concomitant]
     Active Substance: SECUKINUMAB
     Route: 064
  636. COSENTYX [Concomitant]
     Active Substance: SECUKINUMAB
     Route: 064
  637. COSENTYX [Concomitant]
     Active Substance: SECUKINUMAB
     Route: 064
  638. DEXAMETHASONE [Concomitant]
     Active Substance: DEXAMETHASONE
     Indication: Product used for unknown indication
     Route: 064
  639. DOXYCYCLINE HYCLATE [Concomitant]
     Active Substance: DOXYCYCLINE HYCLATE
     Indication: Product used for unknown indication
     Route: 064
  640. ERELZI [Concomitant]
     Active Substance: ETANERCEPT-SZZS
     Indication: Product used for unknown indication
     Route: 064
  641. ERELZI [Concomitant]
     Active Substance: ETANERCEPT-SZZS
     Route: 064
  642. ERELZI [Concomitant]
     Active Substance: ETANERCEPT-SZZS
     Route: 064
  643. ERELZI [Concomitant]
     Active Substance: ETANERCEPT-SZZS
     Route: 064
  644. ERGOCALCIFEROL [Concomitant]
     Active Substance: ERGOCALCIFEROL
     Indication: Product used for unknown indication
     Route: 064
  645. ERGOCALCIFEROL [Concomitant]
     Active Substance: ERGOCALCIFEROL
     Route: 064
  646. ERYTHROMYCIN [Concomitant]
     Active Substance: ERYTHROMYCIN
     Indication: Product used for unknown indication
     Route: 064
  647. ETHINYL ESTRADIOL\NORETHINDRONE [Concomitant]
     Active Substance: ETHINYL ESTRADIOL\NORETHINDRONE
     Indication: Product used for unknown indication
     Route: 064
  648. FLUMETHASONE PIVALATE [Concomitant]
     Active Substance: FLUMETHASONE PIVALATE
     Indication: Product used for unknown indication
     Route: 064
  649. FLUMETHASONE PIVALATE [Concomitant]
     Active Substance: FLUMETHASONE PIVALATE
     Route: 064
  650. FLUMETHASONE PIVALATE [Concomitant]
     Active Substance: FLUMETHASONE PIVALATE
     Route: 064
  651. FLUMETHASONE PIVALATE [Concomitant]
     Active Substance: FLUMETHASONE PIVALATE
     Route: 064
  652. FLUMETHASONE PIVALATE [Concomitant]
     Active Substance: FLUMETHASONE PIVALATE
     Route: 064
  653. FLUMETHASONE PIVALATE [Concomitant]
     Active Substance: FLUMETHASONE PIVALATE
     Route: 064
  654. GLUCOSAMINE [Concomitant]
     Active Substance: GLUCOSAMINE
     Indication: Product used for unknown indication
     Route: 064
  655. HYDROCORTISONE [Concomitant]
     Active Substance: HYDROCORTISONE\HYDROCORTISONE ACETATE
     Indication: Product used for unknown indication
     Route: 064
  656. HYDROCORTISONE [Concomitant]
     Active Substance: HYDROCORTISONE\HYDROCORTISONE ACETATE
     Route: 064
  657. HYDROCORTISONE [Concomitant]
     Active Substance: HYDROCORTISONE\HYDROCORTISONE ACETATE
     Route: 064
  658. HYDROCORTISONE [Concomitant]
     Active Substance: HYDROCORTISONE\HYDROCORTISONE ACETATE
     Route: 064
  659. HYDROCORTISONE [Concomitant]
     Active Substance: HYDROCORTISONE\HYDROCORTISONE ACETATE
     Route: 064
  660. HYDROCORTISONE [Concomitant]
     Active Substance: HYDROCORTISONE\HYDROCORTISONE ACETATE
     Route: 064
  661. HYDROXYCHLOROQUINE SULFATE [Concomitant]
     Active Substance: HYDROXYCHLOROQUINE SULFATE
     Indication: Product used for unknown indication
     Route: 064
  662. HYDROXYCHLOROQUINE SULFATE [Concomitant]
     Active Substance: HYDROXYCHLOROQUINE SULFATE
     Route: 064
  663. HYDROXYCHLOROQUINE SULFATE [Concomitant]
     Active Substance: HYDROXYCHLOROQUINE SULFATE
     Route: 064
  664. HYDROXYCHLOROQUINE SULFATE [Concomitant]
     Active Substance: HYDROXYCHLOROQUINE SULFATE
     Route: 064
  665. HYDROXYCHLOROQUINE SULFATE [Concomitant]
     Active Substance: HYDROXYCHLOROQUINE SULFATE
     Route: 064
  666. HYDROXYCHLOROQUINE SULFATE [Concomitant]
     Active Substance: HYDROXYCHLOROQUINE SULFATE
     Route: 064
  667. HYDROXYCHLOROQUINE SULFATE [Concomitant]
     Active Substance: HYDROXYCHLOROQUINE SULFATE
     Route: 064
  668. HYDROXYCHLOROQUINE SULFATE [Concomitant]
     Active Substance: HYDROXYCHLOROQUINE SULFATE
     Route: 064
  669. HYDROXYCHLOROQUINE SULFATE [Concomitant]
     Active Substance: HYDROXYCHLOROQUINE SULFATE
     Route: 064
  670. HYDROXYCHLOROQUINE SULFATE [Concomitant]
     Active Substance: HYDROXYCHLOROQUINE SULFATE
     Route: 064
  671. HYDROXYCHLOROQUINE SULFATE [Concomitant]
     Active Substance: HYDROXYCHLOROQUINE SULFATE
     Route: 064
  672. HYDROXYCHLOROQUINE SULFATE [Concomitant]
     Active Substance: HYDROXYCHLOROQUINE SULFATE
     Route: 064
  673. HYDROXYCHLOROQUINE SULFATE [Concomitant]
     Active Substance: HYDROXYCHLOROQUINE SULFATE
     Route: 064
  674. HYDROXYCHLOROQUINE SULFATE [Concomitant]
     Active Substance: HYDROXYCHLOROQUINE SULFATE
     Route: 064
  675. HYDROXYCHLOROQUINE SULFATE [Concomitant]
     Active Substance: HYDROXYCHLOROQUINE SULFATE
     Route: 064
  676. HYDROXYCHLOROQUINE SULFATE [Concomitant]
     Active Substance: HYDROXYCHLOROQUINE SULFATE
     Route: 064
  677. HYDROXYCHLOROQUINE SULFATE [Concomitant]
     Active Substance: HYDROXYCHLOROQUINE SULFATE
     Route: 064
  678. HYDROXYCHLOROQUINE SULFATE [Concomitant]
     Active Substance: HYDROXYCHLOROQUINE SULFATE
     Route: 064
  679. HYDROXYCHLOROQUINE SULFATE [Concomitant]
     Active Substance: HYDROXYCHLOROQUINE SULFATE
     Route: 064
  680. HYDROXYCHLOROQUINE SULFATE [Concomitant]
     Active Substance: HYDROXYCHLOROQUINE SULFATE
     Route: 064
  681. HYDROXYCHLOROQUINE SULFATE [Concomitant]
     Active Substance: HYDROXYCHLOROQUINE SULFATE
     Route: 064
  682. HYDROXYCHLOROQUINE SULFATE [Concomitant]
     Active Substance: HYDROXYCHLOROQUINE SULFATE
     Route: 064
  683. HYDROXYCHLOROQUINE SULFATE [Concomitant]
     Active Substance: HYDROXYCHLOROQUINE SULFATE
     Route: 064
  684. LANSOPRAZOLE [Concomitant]
     Active Substance: LANSOPRAZOLE
     Indication: Product used for unknown indication
     Route: 064
  685. LEVOTHYROXINE SODIUM [Concomitant]
     Active Substance: LEVOTHYROXINE SODIUM
     Indication: Product used for unknown indication
     Route: 064
  686. LISINOPRIL [Concomitant]
     Active Substance: LISINOPRIL
     Indication: Product used for unknown indication
     Route: 064
  687. LISINOPRIL [Concomitant]
     Active Substance: LISINOPRIL
     Indication: Product used for unknown indication
     Route: 064
  688. LYRICA [Concomitant]
     Active Substance: PREGABALIN
     Indication: Product used for unknown indication
     Route: 064
  689. MAGNESIUM [Concomitant]
     Active Substance: MAGNESIUM
     Indication: Product used for unknown indication
     Route: 064
  690. MAGNESIUM [Concomitant]
     Active Substance: MAGNESIUM
     Route: 064
  691. MARVELON [Concomitant]
     Active Substance: DESOGESTREL\ETHINYL ESTRADIOL
     Indication: Product used for unknown indication
     Route: 064
  692. MELOXICAM [Concomitant]
     Active Substance: MELOXICAM
     Indication: Product used for unknown indication
     Route: 064
  693. MORPHINE [Concomitant]
     Active Substance: MORPHINE
     Indication: Product used for unknown indication
     Route: 064
  694. MYCOPHENOLATE MOFETIL [Concomitant]
     Active Substance: MYCOPHENOLATE MOFETIL
     Indication: Product used for unknown indication
     Route: 064
  695. NAPROXEN SODIUM [Concomitant]
     Active Substance: NAPROXEN\NAPROXEN SODIUM
     Indication: Product used for unknown indication
     Route: 064
  696. NAPROXEN SODIUM [Concomitant]
     Active Substance: NAPROXEN\NAPROXEN SODIUM
     Route: 064
  697. NAPROXEN SODIUM [Concomitant]
     Active Substance: NAPROXEN\NAPROXEN SODIUM
     Route: 064
  698. OTEZLA [Concomitant]
     Active Substance: APREMILAST
     Indication: Product used for unknown indication
     Route: 064
  699. OTEZLA [Concomitant]
     Active Substance: APREMILAST
     Route: 064
  700. OTEZLA [Concomitant]
     Active Substance: APREMILAST
     Route: 064
  701. OTEZLA [Concomitant]
     Active Substance: APREMILAST
     Route: 064
  702. OTEZLA [Concomitant]
     Active Substance: APREMILAST
     Route: 064
  703. OTEZLA [Concomitant]
     Active Substance: APREMILAST
     Route: 064
  704. OTEZLA [Concomitant]
     Active Substance: APREMILAST
     Route: 064
  705. OTEZLA [Concomitant]
     Active Substance: APREMILAST
     Route: 064
  706. OTEZLA [Concomitant]
     Active Substance: APREMILAST
     Route: 064
  707. OTEZLA [Concomitant]
     Active Substance: APREMILAST
     Route: 064
  708. OTEZLA [Concomitant]
     Active Substance: APREMILAST
     Route: 064
  709. OTEZLA [Concomitant]
     Active Substance: APREMILAST
     Route: 064
  710. OTEZLA [Concomitant]
     Active Substance: APREMILAST
     Route: 064
  711. PIROXICAM [Concomitant]
     Active Substance: PIROXICAM
     Indication: Product used for unknown indication
     Route: 064
  712. PREDNISOLONE [Concomitant]
     Active Substance: PREDNISOLONE
     Indication: Product used for unknown indication
     Route: 064
  713. QUETIAPINE FUMARATE [Concomitant]
     Active Substance: QUETIAPINE FUMARATE
     Indication: Product used for unknown indication
     Route: 064
  714. RAMIPRIL [Concomitant]
     Active Substance: RAMIPRIL
     Indication: Product used for unknown indication
     Route: 064
  715. RAMIPRIL [Concomitant]
     Active Substance: RAMIPRIL
     Route: 064
  716. RAMIPRIL [Concomitant]
     Active Substance: RAMIPRIL
     Route: 064
  717. CETIRIZINE HYDROCHLORIDE\PSEUDOEPHEDRINE HYDROCHLORIDE [Concomitant]
     Active Substance: CETIRIZINE HYDROCHLORIDE\PSEUDOEPHEDRINE HYDROCHLORIDE
     Indication: Product used for unknown indication
     Dosage: TABLET (EXTENDED-RELEASE)
     Route: 064
  718. CETIRIZINE HYDROCHLORIDE\PSEUDOEPHEDRINE HYDROCHLORIDE [Concomitant]
     Active Substance: CETIRIZINE HYDROCHLORIDE\PSEUDOEPHEDRINE HYDROCHLORIDE
     Route: 064
  719. CETIRIZINE HYDROCHLORIDE\PSEUDOEPHEDRINE HYDROCHLORIDE [Concomitant]
     Active Substance: CETIRIZINE HYDROCHLORIDE\PSEUDOEPHEDRINE HYDROCHLORIDE
     Route: 064
  720. CETIRIZINE HYDROCHLORIDE\PSEUDOEPHEDRINE HYDROCHLORIDE [Concomitant]
     Active Substance: CETIRIZINE HYDROCHLORIDE\PSEUDOEPHEDRINE HYDROCHLORIDE
     Route: 064
  721. CETIRIZINE HYDROCHLORIDE\PSEUDOEPHEDRINE HYDROCHLORIDE [Concomitant]
     Active Substance: CETIRIZINE HYDROCHLORIDE\PSEUDOEPHEDRINE HYDROCHLORIDE
     Route: 064
  722. CETIRIZINE HYDROCHLORIDE\PSEUDOEPHEDRINE HYDROCHLORIDE [Concomitant]
     Active Substance: CETIRIZINE HYDROCHLORIDE\PSEUDOEPHEDRINE HYDROCHLORIDE
     Route: 064
  723. CETIRIZINE HYDROCHLORIDE\PSEUDOEPHEDRINE HYDROCHLORIDE [Concomitant]
     Active Substance: CETIRIZINE HYDROCHLORIDE\PSEUDOEPHEDRINE HYDROCHLORIDE
     Route: 064
  724. CETIRIZINE HYDROCHLORIDE\PSEUDOEPHEDRINE HYDROCHLORIDE [Concomitant]
     Active Substance: CETIRIZINE HYDROCHLORIDE\PSEUDOEPHEDRINE HYDROCHLORIDE
     Route: 064
  725. CETIRIZINE HYDROCHLORIDE\PSEUDOEPHEDRINE HYDROCHLORIDE [Concomitant]
     Active Substance: CETIRIZINE HYDROCHLORIDE\PSEUDOEPHEDRINE HYDROCHLORIDE
     Route: 064
  726. CETIRIZINE HYDROCHLORIDE\PSEUDOEPHEDRINE HYDROCHLORIDE [Concomitant]
     Active Substance: CETIRIZINE HYDROCHLORIDE\PSEUDOEPHEDRINE HYDROCHLORIDE
     Route: 064
  727. CETIRIZINE HYDROCHLORIDE\PSEUDOEPHEDRINE HYDROCHLORIDE [Concomitant]
     Active Substance: CETIRIZINE HYDROCHLORIDE\PSEUDOEPHEDRINE HYDROCHLORIDE
     Route: 064
  728. RISEDRONATE SODIUM [Concomitant]
     Active Substance: RISEDRONATE SODIUM
     Indication: Product used for unknown indication
     Route: 064
  729. DIETARY SUPPLEMENT\HERBALS [Concomitant]
     Active Substance: DIETARY SUPPLEMENT\HERBALS
     Indication: Product used for unknown indication
     Route: 064
  730. DIETARY SUPPLEMENT\HERBALS [Concomitant]
     Active Substance: DIETARY SUPPLEMENT\HERBALS
     Route: 064
  731. DIETARY SUPPLEMENT\HERBALS [Concomitant]
     Active Substance: DIETARY SUPPLEMENT\HERBALS
     Dosage: DROPS ORAL
     Route: 064
  732. ALBUTEROL [Concomitant]
     Active Substance: ALBUTEROL
     Indication: Product used for unknown indication
     Route: 064
  733. FISH OIL [Concomitant]
     Active Substance: FISH OIL
     Indication: Product used for unknown indication
     Route: 064
  734. VITAMIN C [Concomitant]
     Active Substance: ASCORBIC ACID
     Indication: Product used for unknown indication
     Route: 064
  735. VITAMIN C [Concomitant]
     Active Substance: ASCORBIC ACID
     Route: 064
  736. VITAMIN C [Concomitant]
     Active Substance: ASCORBIC ACID
     Route: 064
  737. PREDNISONE [Concomitant]
     Active Substance: PREDNISONE
     Indication: Product used for unknown indication
     Route: 064
  738. PREDNISONE [Concomitant]
     Active Substance: PREDNISONE
     Route: 064
  739. ZOPICLONE [Concomitant]
     Active Substance: ZOPICLONE
     Indication: Product used for unknown indication
     Route: 064
  740. CELECOXIB [Concomitant]
     Active Substance: CELECOXIB
     Indication: Product used for unknown indication
     Route: 064
  741. CELECOXIB [Concomitant]
     Active Substance: CELECOXIB
     Route: 064
  742. CELECOXIB [Concomitant]
     Active Substance: CELECOXIB
     Route: 064
  743. CELECOXIB [Concomitant]
     Active Substance: CELECOXIB
     Route: 064
  744. DICLOFENAC POTASSIUM [Concomitant]
     Active Substance: DICLOFENAC POTASSIUM
     Indication: Product used for unknown indication
     Route: 064
  745. DICLOFENAC POTASSIUM [Concomitant]
     Active Substance: DICLOFENAC POTASSIUM
     Route: 064
  746. TYLENOL WITH CODEINE [Concomitant]
     Active Substance: ACETAMINOPHEN\CODEINE PHOSPHATE
     Indication: Product used for unknown indication
     Route: 064
  747. HYDROXYCHLOROQUINE SULFATE [Concomitant]
     Active Substance: HYDROXYCHLOROQUINE SULFATE
     Indication: Product used for unknown indication
     Route: 064
  748. ACETAMINOPHEN [Concomitant]
     Active Substance: ACETAMINOPHEN
     Indication: Product used for unknown indication
     Route: 064
  749. ACETAMINOPHEN\CAFFEINE\CODEINE PHOSPHATE [Concomitant]
     Active Substance: ACETAMINOPHEN\CAFFEINE\CODEINE PHOSPHATE
     Indication: Product used for unknown indication
     Route: 064
  750. CALCIUM [Concomitant]
     Active Substance: CALCIUM
     Indication: Product used for unknown indication
     Route: 064
  751. CALCIUM [Concomitant]
     Active Substance: CALCIUM
     Dosage: TABLET (EFFERVESCENT)
     Route: 064
  752. CETRIMIDE [Concomitant]
     Active Substance: CETRIMIDE
     Indication: Product used for unknown indication
     Route: 064
  753. DOXYCYCLINE [Concomitant]
     Active Substance: DOXYCYCLINE\DOXYCYCLINE HYCLATE
     Indication: Product used for unknown indication
     Route: 064
  754. ETANERCEPT [Concomitant]
     Active Substance: ETANERCEPT
     Indication: Product used for unknown indication
     Route: 064
  755. ETANERCEPT [Concomitant]
     Active Substance: ETANERCEPT
     Route: 064
  756. ETANERCEPT [Concomitant]
     Active Substance: ETANERCEPT
     Route: 064
  757. ETANERCEPT [Concomitant]
     Active Substance: ETANERCEPT
     Route: 064
  758. FLUMETHASONE PIVALATE [Concomitant]
     Active Substance: FLUMETHASONE PIVALATE
     Indication: Product used for unknown indication
     Route: 064
  759. FLUMETHASONE PIVALATE [Concomitant]
     Active Substance: FLUMETHASONE PIVALATE
     Route: 064
  760. FLUMETHASONE PIVALATE [Concomitant]
     Active Substance: FLUMETHASONE PIVALATE
     Route: 064
  761. LORAZEPAM [Concomitant]
     Active Substance: LORAZEPAM
     Indication: Product used for unknown indication
     Route: 064
  762. MOXIFLOXACIN [Concomitant]
     Active Substance: MOXIFLOXACIN
     Indication: Product used for unknown indication
     Route: 064
  763. MOXIFLOXACIN [Concomitant]
     Active Substance: MOXIFLOXACIN
     Route: 064
  764. NAPROXEN [Concomitant]
     Active Substance: NAPROXEN
     Indication: Product used for unknown indication
     Route: 064
  765. NAPROXEN [Concomitant]
     Active Substance: NAPROXEN
     Route: 064
  766. NAPROXEN [Concomitant]
     Active Substance: NAPROXEN
     Indication: Product used for unknown indication
     Route: 064
  767. PREVACID [Concomitant]
     Active Substance: LANSOPRAZOLE
     Indication: Product used for unknown indication
     Route: 064
  768. PSEUDOEPHEDRINE [Concomitant]
     Active Substance: PSEUDOEPHEDRINE
     Indication: Product used for unknown indication
     Route: 064
  769. QUETIAPINE [Concomitant]
     Active Substance: QUETIAPINE
     Indication: Product used for unknown indication
     Route: 064
  770. QUETIAPINE [Concomitant]
     Active Substance: QUETIAPINE
     Route: 064
  771. QUETIAPINE [Concomitant]
     Active Substance: QUETIAPINE
     Route: 064
  772. RITUXAN [Concomitant]
     Active Substance: RITUXIMAB
     Indication: Product used for unknown indication
     Dosage: SOLUTION INTRAVENOUS
     Route: 064
  773. SOLU-MEDROL [Concomitant]
     Active Substance: METHYLPREDNISOLONE SODIUM SUCCINATE
     Indication: Product used for unknown indication
     Route: 064
  774. VITAMIN D3 [Concomitant]
     Active Substance: CHOLECALCIFEROL
     Indication: Product used for unknown indication
     Route: 064
  775. VITAMIN D3 [Concomitant]
     Active Substance: CHOLECALCIFEROL
     Route: 064
  776. CODEINE PHOSPHATE [Concomitant]
     Active Substance: CODEINE PHOSPHATE
     Indication: Product used for unknown indication
     Route: 064
  777. HYDROCORTISONE BUTYRATE [Concomitant]
     Active Substance: HYDROCORTISONE BUTYRATE
     Indication: Product used for unknown indication
     Route: 064
  778. HYDROCORTISONE BUTYRATE [Concomitant]
     Active Substance: HYDROCORTISONE BUTYRATE
     Route: 064
  779. HYDROCORTISONE BUTYRATE [Concomitant]
     Active Substance: HYDROCORTISONE BUTYRATE
     Route: 064
  780. PANTOPRAZOLE SODIUM [Concomitant]
     Active Substance: PANTOPRAZOLE SODIUM
     Indication: Product used for unknown indication
     Route: 064
  781. PANTOPRAZOLE SODIUM [Concomitant]
     Active Substance: PANTOPRAZOLE SODIUM
     Route: 064
  782. DIETARY SUPPLEMENT\HERBALS [Concomitant]
     Active Substance: DIETARY SUPPLEMENT\HERBALS
     Indication: Product used for unknown indication
     Route: 064
  783. ACETAMINOPHEN\CODEINE PHOSPHATE [Concomitant]
     Active Substance: ACETAMINOPHEN\CODEINE PHOSPHATE
     Indication: Product used for unknown indication
     Route: 064
  784. PSEUDOEPHEDRINE HYDROCHLORIDE [Concomitant]
     Active Substance: PSEUDOEPHEDRINE HYDROCHLORIDE
     Indication: Product used for unknown indication
     Route: 064
  785. PSEUDOEPHEDRINE HYDROCHLORIDE [Concomitant]
     Active Substance: PSEUDOEPHEDRINE HYDROCHLORIDE
     Route: 064
  786. PSEUDOEPHEDRINE HYDROCHLORIDE [Concomitant]
     Active Substance: PSEUDOEPHEDRINE HYDROCHLORIDE
     Route: 064
  787. ACETAMINOPHEN\CAFFEINE\CODEINE PHOSPHATE [Concomitant]
     Active Substance: ACETAMINOPHEN\CAFFEINE\CODEINE PHOSPHATE
     Indication: Product used for unknown indication
     Route: 064
  788. ACETAMINOPHEN\CODEINE PHOSPHATE [Concomitant]
     Active Substance: ACETAMINOPHEN\CODEINE PHOSPHATE
     Indication: Product used for unknown indication
     Route: 064
  789. ACETAMINOPHEN AND CODEINE [Concomitant]
     Active Substance: ACETAMINOPHEN\CODEINE PHOSPHATE
     Indication: Product used for unknown indication
     Route: 064
  790. ALENDRONATE SODIUM [Concomitant]
     Active Substance: ALENDRONATE SODIUM
     Indication: Product used for unknown indication
     Route: 064
  791. ALENDRONATE SODIUM [Concomitant]
     Active Substance: ALENDRONATE SODIUM
     Route: 064
  792. ALENDRONATE SODIUM [Concomitant]
     Active Substance: ALENDRONATE SODIUM
     Route: 064
  793. ALENDRONATE SODIUM [Concomitant]
     Active Substance: ALENDRONATE SODIUM
     Route: 064
  794. ALENDRONATE SODIUM [Concomitant]
     Active Substance: ALENDRONATE SODIUM
     Route: 064
  795. APREPITANT [Concomitant]
     Active Substance: APREPITANT
     Indication: Product used for unknown indication
     Route: 064
  796. CETIRIZINE HYDROCHLORIDE [Concomitant]
     Active Substance: CETIRIZINE HYDROCHLORIDE
     Indication: Product used for unknown indication
     Route: 064
  797. CETIRIZINE HYDROCHLORIDE [Concomitant]
     Active Substance: CETIRIZINE HYDROCHLORIDE
     Route: 064
  798. CETIRIZINE HYDROCHLORIDE [Concomitant]
     Active Substance: CETIRIZINE HYDROCHLORIDE
     Route: 064
  799. CETIRIZINE HYDROCHLORIDE [Concomitant]
     Active Substance: CETIRIZINE HYDROCHLORIDE
     Route: 064
  800. CETIRIZINE HYDROCHLORIDE [Concomitant]
     Active Substance: CETIRIZINE HYDROCHLORIDE
     Route: 064
  801. CETIRIZINE HYDROCHLORIDE [Concomitant]
     Active Substance: CETIRIZINE HYDROCHLORIDE
     Route: 064
  802. CETIRIZINE HYDROCHLORIDE [Concomitant]
     Active Substance: CETIRIZINE HYDROCHLORIDE
     Route: 064
  803. CETIRIZINE HYDROCHLORIDE [Concomitant]
     Active Substance: CETIRIZINE HYDROCHLORIDE
     Route: 064
  804. CETIRIZINE HYDROCHLORIDE [Concomitant]
     Active Substance: CETIRIZINE HYDROCHLORIDE
     Route: 064
  805. CETIRIZINE HYDROCHLORIDE [Concomitant]
     Active Substance: CETIRIZINE HYDROCHLORIDE
     Route: 064
  806. CETIRIZINE HYDROCHLORIDE [Concomitant]
     Active Substance: CETIRIZINE HYDROCHLORIDE
     Route: 064
  807. CETIRIZINE HYDROCHLORIDE [Concomitant]
     Active Substance: CETIRIZINE HYDROCHLORIDE
     Route: 064
  808. CETIRIZINE HYDROCHLORIDE [Concomitant]
     Active Substance: CETIRIZINE HYDROCHLORIDE
     Route: 064
  809. CETIRIZINE HYDROCHLORIDE [Concomitant]
     Active Substance: CETIRIZINE HYDROCHLORIDE
     Route: 064
  810. CETIRIZINE HYDROCHLORIDE [Concomitant]
     Active Substance: CETIRIZINE HYDROCHLORIDE
     Route: 064
  811. CETIRIZINE HYDROCHLORIDE [Concomitant]
     Active Substance: CETIRIZINE HYDROCHLORIDE
     Route: 064
  812. CETIRIZINE HYDROCHLORIDE [Concomitant]
     Active Substance: CETIRIZINE HYDROCHLORIDE
     Route: 064
  813. CETIRIZINE HYDROCHLORIDE [Concomitant]
     Active Substance: CETIRIZINE HYDROCHLORIDE
     Route: 064
  814. CETIRIZINE HYDROCHLORIDE [Concomitant]
     Active Substance: CETIRIZINE HYDROCHLORIDE
     Route: 064
  815. CETIRIZINE HYDROCHLORIDE [Concomitant]
     Active Substance: CETIRIZINE HYDROCHLORIDE
     Route: 064
  816. CETIRIZINE HYDROCHLORIDE [Concomitant]
     Active Substance: CETIRIZINE HYDROCHLORIDE
     Route: 064
  817. CETIRIZINE HYDROCHLORIDE [Concomitant]
     Active Substance: CETIRIZINE HYDROCHLORIDE
     Route: 064
  818. CETIRIZINE HYDROCHLORIDE [Concomitant]
     Active Substance: CETIRIZINE HYDROCHLORIDE
     Route: 064
  819. CETIRIZINE HYDROCHLORIDE [Concomitant]
     Active Substance: CETIRIZINE HYDROCHLORIDE
     Route: 064
  820. CETIRIZINE HYDROCHLORIDE [Concomitant]
     Active Substance: CETIRIZINE HYDROCHLORIDE
     Route: 064
  821. CETIRIZINE HYDROCHLORIDE [Concomitant]
     Active Substance: CETIRIZINE HYDROCHLORIDE
     Route: 064
  822. CETIRIZINE HYDROCHLORIDE [Concomitant]
     Active Substance: CETIRIZINE HYDROCHLORIDE
     Route: 064
  823. CHLORHEXIDINE GLUCONATE [Concomitant]
     Active Substance: CHLORHEXIDINE GLUCONATE
     Indication: Product used for unknown indication
     Route: 064
  824. CHLORHEXIDINE GLUCONATE [Concomitant]
     Active Substance: CHLORHEXIDINE GLUCONATE
     Route: 064
  825. CHLORHEXIDINE GLUCONATE\ISOPROPYL ALCOHOL [Concomitant]
     Active Substance: CHLORHEXIDINE GLUCONATE\ISOPROPYL ALCOHOL
     Indication: Product used for unknown indication
     Route: 064
  826. CHLORHEXIDINE GLUCONATE\ISOPROPYL ALCOHOL [Concomitant]
     Active Substance: CHLORHEXIDINE GLUCONATE\ISOPROPYL ALCOHOL
     Route: 064
  827. OXYCODONE HYDROCHLORIDE [Concomitant]
     Active Substance: OXYCODONE HYDROCHLORIDE
     Indication: Product used for unknown indication
     Route: 064
  828. SULFAMETHOXAZOLE\TRIMETHOPRIM [Concomitant]
     Active Substance: SULFAMETHOXAZOLE\TRIMETHOPRIM
     Indication: Product used for unknown indication
     Route: 064
  829. TOCILIZUMAB [Concomitant]
     Active Substance: TOCILIZUMAB
     Indication: Product used for unknown indication
     Route: 064
  830. TOCILIZUMAB [Concomitant]
     Active Substance: TOCILIZUMAB
     Route: 064
  831. TOCILIZUMAB [Concomitant]
     Active Substance: TOCILIZUMAB
     Route: 064
  832. TOCILIZUMAB [Concomitant]
     Active Substance: TOCILIZUMAB
     Route: 064
  833. TOCILIZUMAB [Concomitant]
     Active Substance: TOCILIZUMAB
     Route: 064
  834. TOCILIZUMAB [Concomitant]
     Active Substance: TOCILIZUMAB
     Route: 064
  835. TOCILIZUMAB [Concomitant]
     Active Substance: TOCILIZUMAB
     Route: 064
  836. TOCILIZUMAB [Concomitant]
     Active Substance: TOCILIZUMAB
     Route: 064
  837. TOCILIZUMAB [Concomitant]
     Active Substance: TOCILIZUMAB
     Route: 064
  838. TOCILIZUMAB [Concomitant]
     Active Substance: TOCILIZUMAB
     Route: 064
  839. USTEKINUMAB [Concomitant]
     Active Substance: USTEKINUMAB
     Indication: Product used for unknown indication
     Route: 064
  840. USTEKINUMAB [Concomitant]
     Active Substance: USTEKINUMAB
     Route: 064
  841. USTEKINUMAB [Concomitant]
     Active Substance: USTEKINUMAB
     Route: 064
  842. USTEKINUMAB [Concomitant]
     Active Substance: USTEKINUMAB
     Route: 064
  843. USTEKINUMAB [Concomitant]
     Active Substance: USTEKINUMAB
     Route: 064
  844. EMEND [Concomitant]
     Active Substance: APREPITANT
     Indication: Product used for unknown indication
     Route: 064
  845. EMEND [Concomitant]
     Active Substance: APREPITANT
     Route: 064
  846. ACETAMINOPHEN\OXYCODONE HYDROCHLORIDE [Concomitant]
     Active Substance: ACETAMINOPHEN\OXYCODONE HYDROCHLORIDE
     Indication: Product used for unknown indication
     Route: 064
  847. ACETAMINOPHEN\PROPOXYPHENE [Concomitant]
     Active Substance: ACETAMINOPHEN\PROPOXYPHENE
     Indication: Product used for unknown indication
     Route: 064
  848. CAFFEINE;DIHYDROCODEINE;PARACETAMOL [Concomitant]
     Indication: Product used for unknown indication
     Route: 064
  849. LEFLUNOMIDE [Concomitant]
     Active Substance: LEFLUNOMIDE
     Indication: Product used for unknown indication
     Route: 064
  850. LEFLUNOMIDE [Concomitant]
     Active Substance: LEFLUNOMIDE
     Route: 064
  851. LEFLUNOMIDE [Concomitant]
     Active Substance: LEFLUNOMIDE
     Route: 064
  852. LEFLUNOMIDE [Concomitant]
     Active Substance: LEFLUNOMIDE
     Route: 064
  853. LEFLUNOMIDE [Concomitant]
     Active Substance: LEFLUNOMIDE
     Route: 064
  854. HYDROCORTISONE PROBUTATE [Concomitant]
     Active Substance: HYDROCORTISONE PROBUTATE
     Indication: Product used for unknown indication
     Route: 064
  855. ERGOCALCIFEROL [Concomitant]
     Active Substance: ERGOCALCIFEROL
     Indication: Product used for unknown indication
     Route: 064
  856. HYDROCORTISONE ACETATE [Concomitant]
     Active Substance: HYDROCORTISONE ACETATE
     Indication: Product used for unknown indication
     Route: 064
  857. TRAMADOL HYDROCHLORIDE [Concomitant]
     Active Substance: TRAMADOL HYDROCHLORIDE
     Indication: Product used for unknown indication
     Route: 064
  858. CETIRIZINE HYDROCHLORIDE\PSEUDOEPHEDRINE HYDROCHLORIDE [Concomitant]
     Active Substance: CETIRIZINE HYDROCHLORIDE\PSEUDOEPHEDRINE HYDROCHLORIDE
     Indication: Product used for unknown indication
     Dosage: TABLET (EXTENTED RELEASE)
     Route: 064
  859. CETIRIZINE HYDROCHLORIDE\PSEUDOEPHEDRINE HYDROCHLORIDE [Concomitant]
     Active Substance: CETIRIZINE HYDROCHLORIDE\PSEUDOEPHEDRINE HYDROCHLORIDE
     Dosage: TABLET (EXTENTED RELEASE)
     Route: 064
  860. CETIRIZINE HYDROCHLORIDE\PSEUDOEPHEDRINE HYDROCHLORIDE [Concomitant]
     Active Substance: CETIRIZINE HYDROCHLORIDE\PSEUDOEPHEDRINE HYDROCHLORIDE
     Dosage: TABLET (EXTENTED RELEASE)
     Route: 064
  861. NEOMYCIN [Concomitant]
     Active Substance: NEOMYCIN
     Indication: Product used for unknown indication
     Route: 064
  862. ALENDRONATE SODIUM [Concomitant]
     Active Substance: ALENDRONATE SODIUM
     Indication: Product used for unknown indication
     Route: 064
  863. ISOPROPYL ALCOHOL [Concomitant]
     Active Substance: ISOPROPYL ALCOHOL
     Indication: Product used for unknown indication
     Route: 064
  864. ISOPROPYL ALCOHOL [Concomitant]
     Active Substance: ISOPROPYL ALCOHOL
     Dosage: LIQUID TOPICALI
     Route: 064
  865. OXYCODONE AND ACETAMINOPHEN [Concomitant]
     Active Substance: ACETAMINOPHEN\OXYCODONE HYDROCHLORIDE
     Indication: Product used for unknown indication
     Route: 064
  866. HYDROXYCHLOROQUINE SULFATE [Concomitant]
     Active Substance: HYDROXYCHLOROQUINE SULFATE
     Indication: Product used for unknown indication
     Route: 064
  867. DESOXIMETASONE [Concomitant]
     Active Substance: DESOXIMETASONE
     Indication: Product used for unknown indication
     Route: 064
  868. DESOXIMETASONE [Concomitant]
     Active Substance: DESOXIMETASONE
     Route: 064
  869. DESOXIMETASONE [Concomitant]
     Active Substance: DESOXIMETASONE
     Route: 064
  870. DESOXIMETASONE [Concomitant]
     Active Substance: DESOXIMETASONE
     Route: 064
  871. DESOXIMETASONE [Concomitant]
     Active Substance: DESOXIMETASONE
     Route: 064
  872. DESOXIMETASONE [Concomitant]
     Active Substance: DESOXIMETASONE
     Route: 064
  873. DESOXIMETASONE [Concomitant]
     Active Substance: DESOXIMETASONE
     Route: 064
  874. DESOXIMETASONE [Concomitant]
     Active Substance: DESOXIMETASONE
     Route: 064
  875. DESOXIMETASONE [Concomitant]
     Active Substance: DESOXIMETASONE
     Route: 064
  876. DESOXIMETASONE [Concomitant]
     Active Substance: DESOXIMETASONE
     Route: 064
  877. DESOXIMETASONE [Concomitant]
     Active Substance: DESOXIMETASONE
     Route: 064
  878. ETANERCEPT [Concomitant]
     Active Substance: ETANERCEPT
     Indication: Product used for unknown indication
     Route: 064
  879. CETIRIZINE HYDROCHLORIDE [Concomitant]
     Active Substance: CETIRIZINE HYDROCHLORIDE
     Indication: Product used for unknown indication
     Route: 064
  880. CETIRIZINE HYDROCHLORIDE [Concomitant]
     Active Substance: CETIRIZINE HYDROCHLORIDE
     Indication: Product used for unknown indication
     Route: 064
  881. CETIRIZINE HYDROCHLORIDE [Concomitant]
     Active Substance: CETIRIZINE HYDROCHLORIDE
     Route: 064
  882. CETIRIZINE HYDROCHLORIDE [Concomitant]
     Active Substance: CETIRIZINE HYDROCHLORIDE
     Route: 064
  883. CETIRIZINE HYDROCHLORIDE [Concomitant]
     Active Substance: CETIRIZINE HYDROCHLORIDE
     Route: 064
  884. CETIRIZINE HYDROCHLORIDE [Concomitant]
     Active Substance: CETIRIZINE HYDROCHLORIDE
     Route: 064
  885. CETIRIZINE HYDROCHLORIDE [Concomitant]
     Active Substance: CETIRIZINE HYDROCHLORIDE
     Route: 064
  886. CETIRIZINE HYDROCHLORIDE [Concomitant]
     Active Substance: CETIRIZINE HYDROCHLORIDE
     Route: 064
  887. CETIRIZINE HYDROCHLORIDE [Concomitant]
     Active Substance: CETIRIZINE HYDROCHLORIDE
     Dosage: TABLET (EXTENDED-RELEASE)
     Route: 064
  888. CETIRIZINE HYDROCHLORIDE [Concomitant]
     Active Substance: CETIRIZINE HYDROCHLORIDE
     Route: 064
  889. SULFASALAZINE [Concomitant]
     Active Substance: SULFASALAZINE
     Indication: Product used for unknown indication
     Route: 064
  890. AIMOVIG [Concomitant]
     Active Substance: ERENUMAB-AOOE
     Indication: Product used for unknown indication
     Route: 064
  891. AIMOVIG [Concomitant]
     Active Substance: ERENUMAB-AOOE
     Route: 064
  892. DICLOFENAC DIETHYLAMINE [Concomitant]
     Active Substance: DICLOFENAC DIETHYLAMINE
     Indication: Product used for unknown indication
     Route: 064
  893. TOFACITINIB [Concomitant]
     Active Substance: TOFACITINIB
     Indication: Product used for unknown indication
     Route: 064
  894. TOFACITINIB [Concomitant]
     Active Substance: TOFACITINIB
     Route: 064
  895. TOFACITINIB [Concomitant]
     Active Substance: TOFACITINIB
     Route: 064
  896. TOFACITINIB [Concomitant]
     Active Substance: TOFACITINIB
     Route: 064
  897. TOFACITINIB [Concomitant]
     Active Substance: TOFACITINIB
     Route: 064
  898. TOFACITINIB [Concomitant]
     Active Substance: TOFACITINIB
     Route: 064
  899. SULFATHIAZOLE [Concomitant]
     Active Substance: SULFATHIAZOLE
     Indication: Product used for unknown indication
     Route: 064
  900. GOLD SODIUM THIOMALATE [Concomitant]
     Active Substance: GOLD SODIUM THIOMALATE
     Indication: Product used for unknown indication
     Route: 064
  901. GOLD SODIUM THIOMALATE [Concomitant]
     Active Substance: GOLD SODIUM THIOMALATE
     Route: 064
  902. DIETARY SUPPLEMENT [Concomitant]
     Active Substance: DIETARY SUPPLEMENT
     Indication: Product used for unknown indication
     Route: 064
  903. PHENYLEPHRINE HYDROCHLORIDE [Concomitant]
     Active Substance: PHENYLEPHRINE HYDROCHLORIDE
     Indication: Product used for unknown indication
     Dosage: LIQUID INTRAMUSCULAR
     Route: 064
  904. PHENYLEPHRINE HYDROCHLORIDE [Concomitant]
     Active Substance: PHENYLEPHRINE HYDROCHLORIDE
     Route: 064
  905. NUCALA [Concomitant]
     Active Substance: MEPOLIZUMAB
     Indication: Product used for unknown indication
     Route: 064
  906. METHYLPREDNISOLONE SODIUM SUCCINATE [Concomitant]
     Active Substance: METHYLPREDNISOLONE SODIUM SUCCINATE
     Indication: Product used for unknown indication
     Route: 064
  907. METFORMIN HYDROCHLORIDE [Concomitant]
     Active Substance: METFORMIN HYDROCHLORIDE
     Indication: Product used for unknown indication
     Route: 064
  908. GOLIMUMAB [Concomitant]
     Active Substance: GOLIMUMAB
     Indication: Product used for unknown indication
     Route: 064
  909. GOLIMUMAB [Concomitant]
     Active Substance: GOLIMUMAB
     Route: 064
  910. GOLD SODIUM THIOMALATE [Concomitant]
     Active Substance: GOLD SODIUM THIOMALATE
     Indication: Product used for unknown indication
     Dosage: SOLUTION INTRAMUSCULAR
     Route: 064
  911. GOLD SODIUM THIOMALATE [Concomitant]
     Active Substance: GOLD SODIUM THIOMALATE
     Route: 064
  912. GOLD SODIUM THIOMALATE [Concomitant]
     Active Substance: GOLD SODIUM THIOMALATE
     Route: 064
  913. GOLD [Concomitant]
     Active Substance: GOLD
     Indication: Product used for unknown indication
     Route: 064
  914. FLUMETHASONE [Concomitant]
     Active Substance: FLUMETHASONE
     Indication: Product used for unknown indication
     Route: 064
  915. DOMPERIDONE MALEATE [Concomitant]
     Active Substance: DOMPERIDONE MALEATE
     Indication: Product used for unknown indication
     Route: 064
  916. DICLOFENAC DIETHYLAMINE [Concomitant]
     Active Substance: DICLOFENAC DIETHYLAMINE
     Indication: Product used for unknown indication
     Route: 064
  917. CERTOLIZUMAB PEGOL [Concomitant]
     Active Substance: CERTOLIZUMAB PEGOL
     Indication: Product used for unknown indication
     Route: 064
  918. CERTOLIZUMAB PEGOL [Concomitant]
     Active Substance: CERTOLIZUMAB PEGOL
     Route: 064
  919. CERTOLIZUMAB PEGOL [Concomitant]
     Active Substance: CERTOLIZUMAB PEGOL
     Route: 064
  920. CERTOLIZUMAB PEGOL [Concomitant]
     Active Substance: CERTOLIZUMAB PEGOL
     Route: 064
  921. CERTOLIZUMAB PEGOL [Concomitant]
     Active Substance: CERTOLIZUMAB PEGOL
     Route: 064
  922. CANDESARTAN [Concomitant]
     Active Substance: CANDESARTAN
     Indication: Product used for unknown indication
     Route: 064
  923. CANDESARTAN [Concomitant]
     Active Substance: CANDESARTAN
     Route: 064
  924. CALCIUM ASCORBATE [Concomitant]
     Active Substance: CALCIUM ASCORBATE
     Indication: Product used for unknown indication
     Route: 064
  925. CALCIUM CITRATE [Concomitant]
     Active Substance: CALCIUM CITRATE
     Indication: Product used for unknown indication
     Route: 064
  926. ATOMOXETINE [Concomitant]
     Active Substance: ATOMOXETINE HYDROCHLORIDE
     Indication: Product used for unknown indication
     Route: 064
  927. ATOMOXETINE [Concomitant]
     Active Substance: ATOMOXETINE HYDROCHLORIDE
     Route: 064
  928. BERINERT [Concomitant]
     Active Substance: HUMAN C1-ESTERASE INHIBITOR
     Indication: Product used for unknown indication
     Route: 064
  929. BOTULINUM TOXIN TYPE A [Concomitant]
     Active Substance: BOTULINUM TOXIN TYPE A
     Indication: Product used for unknown indication
     Route: 064
  930. BOTULINUM TOXIN TYPE A [Concomitant]
     Active Substance: BOTULINUM TOXIN TYPE A
     Route: 064
  931. APREMILAST [Concomitant]
     Active Substance: APREMILAST
     Indication: Product used for unknown indication
     Route: 064
  932. APREMILAST [Concomitant]
     Active Substance: APREMILAST
     Route: 064
  933. APREMILAST [Concomitant]
     Active Substance: APREMILAST
     Route: 064
  934. APREMILAST [Concomitant]
     Active Substance: APREMILAST
     Route: 064
  935. APREMILAST [Concomitant]
     Active Substance: APREMILAST
     Route: 064
  936. HYALURONIDASE (HUMAN RECOMBINANT) [Concomitant]
     Active Substance: HYALURONIDASE (HUMAN RECOMBINANT)
     Indication: Product used for unknown indication
     Dosage: V
     Route: 064
  937. TOFACITINIB CITRATE [Concomitant]
     Active Substance: TOFACITINIB CITRATE
     Indication: Product used for unknown indication
     Route: 064
  938. TOFACITINIB CITRATE [Concomitant]
     Active Substance: TOFACITINIB CITRATE
     Route: 064
  939. TOFACITINIB CITRATE [Concomitant]
     Active Substance: TOFACITINIB CITRATE
     Route: 064
  940. PSEUDOEPHEDRINE HYDROCHLORIDE [Concomitant]
     Active Substance: PSEUDOEPHEDRINE HYDROCHLORIDE
     Indication: Product used for unknown indication
     Route: 064
  941. PSEUDOEPHEDRINE HYDROCHLORIDE [Concomitant]
     Active Substance: PSEUDOEPHEDRINE HYDROCHLORIDE
     Route: 064
  942. PSEUDOEPHEDRINE HYDROCHLORIDE [Concomitant]
     Active Substance: PSEUDOEPHEDRINE HYDROCHLORIDE
     Route: 064
  943. PSEUDOEPHEDRINE HYDROCHLORIDE [Concomitant]
     Active Substance: PSEUDOEPHEDRINE HYDROCHLORIDE
     Route: 064
  944. PSEUDOEPHEDRINE HYDROCHLORIDE [Concomitant]
     Active Substance: PSEUDOEPHEDRINE HYDROCHLORIDE
     Route: 064
  945. PSEUDOEPHEDRINE HYDROCHLORIDE [Concomitant]
     Active Substance: PSEUDOEPHEDRINE HYDROCHLORIDE
     Route: 064
  946. PSEUDOEPHEDRINE HYDROCHLORIDE [Concomitant]
     Active Substance: PSEUDOEPHEDRINE HYDROCHLORIDE
     Route: 064
  947. PSEUDOEPHEDRINE HYDROCHLORIDE [Concomitant]
     Active Substance: PSEUDOEPHEDRINE HYDROCHLORIDE
     Route: 064
  948. PSEUDOEPHEDRINE HYDROCHLORIDE [Concomitant]
     Active Substance: PSEUDOEPHEDRINE HYDROCHLORIDE
     Route: 064
  949. PSEUDOEPHEDRINE HYDROCHLORIDE [Concomitant]
     Active Substance: PSEUDOEPHEDRINE HYDROCHLORIDE
     Route: 064
  950. PSEUDOEPHEDRINE HYDROCHLORIDE [Concomitant]
     Active Substance: PSEUDOEPHEDRINE HYDROCHLORIDE
     Route: 064
  951. CETIRIZINE HYDROCHLORIDE\PSEUDOEPHEDRINE HYDROCHLORIDE [Concomitant]
     Active Substance: CETIRIZINE HYDROCHLORIDE\PSEUDOEPHEDRINE HYDROCHLORIDE
     Indication: Product used for unknown indication
     Route: 064
  952. ACETAMINOPHEN\CAFFEINE\CODEINE PHOSPHATE [Concomitant]
     Active Substance: ACETAMINOPHEN\CAFFEINE\CODEINE PHOSPHATE
     Indication: Product used for unknown indication
     Route: 064
  953. BETAMETHASONE [Concomitant]
     Active Substance: BETAMETHASONE\BETAMETHASONE DIPROPIONATE
     Indication: Product used for unknown indication
     Route: 064
  954. BUPRENORPHINE [Concomitant]
     Active Substance: BUPRENORPHINE
     Indication: Product used for unknown indication
     Route: 064
  955. CYCLOBENZAPRINE [Concomitant]
     Active Substance: CYCLOBENZAPRINE
     Indication: Product used for unknown indication
     Route: 064
  956. CYCLOBENZAPRINE [Concomitant]
     Active Substance: CYCLOBENZAPRINE
     Route: 064
  957. DOMPERIDONE [Concomitant]
     Active Substance: DOMPERIDONE
     Indication: Product used for unknown indication
     Route: 064
  958. FINACEA [Concomitant]
     Active Substance: AZELAIC ACID
     Indication: Product used for unknown indication
     Route: 064
  959. FLUTICASONE [Concomitant]
     Active Substance: FLUTICASONE
     Indication: Product used for unknown indication
     Route: 064
  960. HYDROCORTISONE PROBUTATE [Concomitant]
     Active Substance: HYDROCORTISONE PROBUTATE
     Indication: Product used for unknown indication
     Route: 064
  961. HYDROMORPHONE [Concomitant]
     Active Substance: HYDROMORPHONE
     Indication: Product used for unknown indication
     Route: 064
  962. LAMOTRIGINE [Concomitant]
     Active Substance: LAMOTRIGINE
     Indication: Product used for unknown indication
     Route: 064
  963. LAMOTRIGINE [Concomitant]
     Active Substance: LAMOTRIGINE
     Route: 064
  964. LAMOTRIGINE [Concomitant]
     Active Substance: LAMOTRIGINE
     Route: 064
  965. LEVOMILNACIPRAN [Concomitant]
     Active Substance: LEVOMILNACIPRAN
     Indication: Product used for unknown indication
     Route: 064
  966. LEVOMILNACIPRAN [Concomitant]
     Active Substance: LEVOMILNACIPRAN
     Route: 064
  967. LEVOMILNACIPRAN [Concomitant]
     Active Substance: LEVOMILNACIPRAN
     Route: 064
  968. FLUMETHASONE PIVALATE [Concomitant]
     Active Substance: FLUMETHASONE PIVALATE
     Indication: Product used for unknown indication
     Route: 064
  969. METHYLPREDNISOLONE [Concomitant]
     Active Substance: METHYLPREDNISOLONE
     Indication: Product used for unknown indication
     Route: 064
  970. METHYLPREDNISOLONE [Concomitant]
     Active Substance: METHYLPREDNISOLONE
     Route: 064
  971. MINOCYCLINE [Concomitant]
     Active Substance: MINOCYCLINE HYDROCHLORIDE
     Indication: Product used for unknown indication
     Route: 064
  972. MYRBETRIQ [Concomitant]
     Active Substance: MIRABEGRON
     Indication: Product used for unknown indication
     Route: 064
  973. MYRBETRIQ [Concomitant]
     Active Substance: MIRABEGRON
     Route: 064
  974. MYRBETRIQ [Concomitant]
     Active Substance: MIRABEGRON
     Route: 064
  975. PHOSPHORUS [Concomitant]
     Active Substance: PHOSPHORUS
     Indication: Product used for unknown indication
     Route: 064
  976. RANITIDINE [Concomitant]
     Active Substance: RANITIDINE
     Indication: Product used for unknown indication
     Route: 064
  977. RANITIDINE [Concomitant]
     Active Substance: RANITIDINE
     Route: 064
  978. RANITIDINE [Concomitant]
     Active Substance: RANITIDINE
     Route: 064
  979. RANITIDINE [Concomitant]
     Active Substance: RANITIDINE
     Route: 064
  980. SIRUKUMAB [Concomitant]
     Active Substance: SIRUKUMAB
     Indication: Product used for unknown indication
     Route: 064
  981. TOPIRAMATE [Concomitant]
     Active Substance: TOPIRAMATE
     Indication: Product used for unknown indication
     Route: 064
  982. TOPIRAMATE [Concomitant]
     Active Substance: TOPIRAMATE
     Route: 064
  983. TOPIRAMATE [Concomitant]
     Active Substance: TOPIRAMATE
     Route: 064
  984. TOPIRAMATE [Concomitant]
     Active Substance: TOPIRAMATE
     Route: 064
  985. TOPIRAMATE [Concomitant]
     Active Substance: TOPIRAMATE
     Route: 064
  986. TOPIRAMATE [Concomitant]
     Active Substance: TOPIRAMATE
     Route: 064
  987. TRAZODONE [Concomitant]
     Active Substance: TRAZODONE HYDROCHLORIDE
     Indication: Product used for unknown indication
     Route: 064
  988. TRETINOIN [Concomitant]
     Active Substance: TRETINOIN
     Indication: Product used for unknown indication
     Route: 064
  989. AZATHIOPRINE SODIUM [Concomitant]
     Active Substance: AZATHIOPRINE SODIUM
     Indication: Product used for unknown indication
     Route: 064
  990. BUTRANS [Concomitant]
     Active Substance: BUPRENORPHINE
     Indication: Product used for unknown indication
     Route: 064
  991. BUTRANS [Concomitant]
     Active Substance: BUPRENORPHINE
     Dosage: PATCH
     Route: 064
  992. LAMICTAL [Concomitant]
     Active Substance: LAMOTRIGINE
     Indication: Product used for unknown indication
     Route: 064
  993. LAMICTAL [Concomitant]
     Active Substance: LAMOTRIGINE
     Route: 064
  994. LAMICTAL [Concomitant]
     Active Substance: LAMOTRIGINE
     Route: 064
  995. MAGNESIUM CITRATE [Concomitant]
     Active Substance: MAGNESIUM CITRATE
     Indication: Product used for unknown indication
     Route: 064
  996. THIAMINE HYDROCHLORIDE [Concomitant]
     Active Substance: THIAMINE HYDROCHLORIDE
     Indication: Product used for unknown indication
     Route: 064
  997. MINOCYCLINE HYDROCHLORIDE [Concomitant]
     Active Substance: MINOCYCLINE HYDROCHLORIDE
     Indication: Product used for unknown indication
     Route: 064
  998. MINOCYCLINE HYDROCHLORIDE [Concomitant]
     Active Substance: MINOCYCLINE HYDROCHLORIDE
     Route: 064
  999. MYOCHRYSINE [Concomitant]
     Active Substance: GOLD SODIUM THIOMALATE
     Indication: Product used for unknown indication
     Dosage: SOLUTION INTRAMUSCULAR
     Route: 064
  1000. RANITIDINE HYDROCHLORIDE [Concomitant]
     Active Substance: RANITIDINE HYDROCHLORIDE
     Indication: Product used for unknown indication
     Route: 064
  1001. ALENDRONATE SODIUM\CHOLECALCIFEROL [Concomitant]
     Active Substance: ALENDRONATE SODIUM\CHOLECALCIFEROL
     Indication: Product used for unknown indication
     Route: 064
  1002. CHLORHEXIDINE ACETATE [Concomitant]
     Active Substance: CHLORHEXIDINE ACETATE
     Indication: Product used for unknown indication
     Route: 064
  1003. CHLORHEXIDINE ACETATE [Concomitant]
     Active Substance: CHLORHEXIDINE ACETATE
     Route: 064
  1004. CHLORHEXIDINE ACETATE [Concomitant]
     Active Substance: CHLORHEXIDINE ACETATE
     Route: 064
  1005. MEGLUMINE [Concomitant]
     Active Substance: MEGLUMINE
     Indication: Product used for unknown indication
     Route: 064
  1006. ATOMOXETINE HYDROCHLORIDE [Concomitant]
     Active Substance: ATOMOXETINE HYDROCHLORIDE
     Indication: Product used for unknown indication
     Route: 064
  1007. ATOMOXETINE HYDROCHLORIDE [Concomitant]
     Active Substance: ATOMOXETINE HYDROCHLORIDE
     Route: 064
  1008. HAIR KERATIN AMINO ACIDS GOLD COMPLEX [Concomitant]
     Active Substance: HAIR KERATIN AMINO ACIDS GOLD COMPLEX
     Indication: Product used for unknown indication
     Route: 064
  1009. TRAMADOL HYDROCHLORIDE [Concomitant]
     Active Substance: TRAMADOL HYDROCHLORIDE
     Indication: Product used for unknown indication
     Route: 064
  1010. TRAMADOL HYDROCHLORIDE [Concomitant]
     Active Substance: TRAMADOL HYDROCHLORIDE
     Route: 064
  1011. DESOGESTREL [Concomitant]
     Active Substance: DESOGESTREL
     Indication: Product used for unknown indication
     Route: 064
  1012. CLIOQUINOL\FLUMETHASONE [Concomitant]
     Active Substance: CLIOQUINOL\FLUMETHASONE
     Indication: Product used for unknown indication
     Route: 064
  1013. ACETAMINOPHEN\BUTALBITAL\CAFFEINE\CODEINE PHOSPHATE [Concomitant]
     Active Substance: ACETAMINOPHEN\BUTALBITAL\CAFFEINE\CODEINE PHOSPHATE
     Indication: Product used for unknown indication
     Route: 064
  1014. TRIAMCINOLONE [Concomitant]
     Active Substance: TRIAMCINOLONE
     Indication: Product used for unknown indication
     Route: 064
  1015. TRIAMCINOLONE [Concomitant]
     Active Substance: TRIAMCINOLONE
     Route: 064
  1016. ACETAMINOPHEN\BUTALBITAL [Concomitant]
     Active Substance: ACETAMINOPHEN\BUTALBITAL
     Indication: Product used for unknown indication
     Route: 064
  1017. CYANOCOBALAMIN [Concomitant]
     Active Substance: CYANOCOBALAMIN
     Indication: Product used for unknown indication
     Route: 064
  1018. METFORMIN HYDROCHLORIDE [Concomitant]
     Active Substance: METFORMIN HYDROCHLORIDE
     Indication: Product used for unknown indication
     Route: 064
  1019. MAGNESIUM HYDROXIDE [Concomitant]
     Active Substance: MAGNESIUM HYDROXIDE
     Indication: Product used for unknown indication
     Route: 064
  1020. FLUTICASONE PROPIONATE [Concomitant]
     Active Substance: FLUTICASONE PROPIONATE
     Indication: Product used for unknown indication
     Route: 064
  1021. ERENUMAB [Concomitant]
     Active Substance: ERENUMAB
     Indication: Product used for unknown indication
     Route: 064
  1022. PSEUDOEPHEDRINE HYDROCHLORIDE [Concomitant]
     Active Substance: PSEUDOEPHEDRINE HYDROCHLORIDE
     Indication: Product used for unknown indication
     Route: 064
  1023. PSEUDOEPHEDRINE HYDROCHLORIDE [Concomitant]
     Active Substance: PSEUDOEPHEDRINE HYDROCHLORIDE
     Route: 064
  1024. PSEUDOEPHEDRINE HYDROCHLORIDE [Concomitant]
     Active Substance: PSEUDOEPHEDRINE HYDROCHLORIDE
     Route: 064
  1025. DEXTROMETHORPHAN [Concomitant]
     Active Substance: DEXTROMETHORPHAN
     Indication: Product used for unknown indication
     Route: 064
  1026. MINOCYCLINE HYDROCHLORIDE [Concomitant]
     Active Substance: MINOCYCLINE HYDROCHLORIDE
     Indication: Product used for unknown indication
     Route: 064
  1027. NICOTINAMIDE [Concomitant]
     Active Substance: NIACINAMIDE
     Indication: Product used for unknown indication
     Route: 064
  1028. PHENYLEPHRINE HYDROCHLORIDE [Concomitant]
     Active Substance: PHENYLEPHRINE HYDROCHLORIDE
     Indication: Product used for unknown indication
     Route: 064
  1029. RETINOL [Concomitant]
     Active Substance: RETINOL
     Indication: Product used for unknown indication
     Route: 064
  1030. ZINC [Concomitant]
     Active Substance: ZINC
     Indication: Product used for unknown indication
     Route: 064
  1031. ERENUMAB-AOOE [Concomitant]
     Active Substance: ERENUMAB-AOOE
     Indication: Product used for unknown indication
     Route: 064
  1032. FLUTICASONE PROPIONATE [Concomitant]
     Active Substance: FLUTICASONE PROPIONATE
     Indication: Product used for unknown indication
     Route: 064
  1033. SODIUM AUROTIOSULFATE [Concomitant]
     Active Substance: SODIUM AUROTIOSULFATE
     Indication: Product used for unknown indication
     Route: 064
  1034. RIBOFLAVIN [Concomitant]
     Active Substance: RIBOFLAVIN
     Indication: Product used for unknown indication
     Route: 064

REACTIONS (2)
  - Congenital anomaly [Unknown]
  - Foetal exposure during pregnancy [Unknown]
